FAERS Safety Report 12306701 (Version 1)
Quarter: 2016Q2

REPORT INFORMATION
  Report Type: Spontaneous
  Country: JP (occurrence: JP)
  Receive Date: 20160426
  Receipt Date: 20160426
  Transmission Date: 20160815
  Serious: Yes (Death)
  Sender: FDA-Public Use
  Company Number: JP-ROCHE-1697465

PATIENT
  Age: 7 Year
  Sex: Male
  Weight: 27 kg

DRUGS (682)
  1. VEPESIDE [Concomitant]
     Active Substance: ETOPOSIDE
     Route: 048
     Dates: start: 20140617, end: 20140707
  2. HEPARIN [Concomitant]
     Active Substance: HEPARIN SODIUM
     Dosage: THE FRACTIONATION DOSE FREQUENCY IS UNCERTAIN.
     Route: 041
     Dates: start: 20131225, end: 20131226
  3. HEPARIN [Concomitant]
     Active Substance: HEPARIN SODIUM
     Dosage: THE FRACTIONATION DOSE FREQUENCY IS UNCERTAIN.
     Route: 041
     Dates: start: 20140214, end: 20140214
  4. HEPARIN [Concomitant]
     Active Substance: HEPARIN SODIUM
     Dosage: THE FRACTIONATION DOSE FREQUENCY IS UNCERTAIN.
     Route: 041
     Dates: start: 20140311, end: 20140311
  5. HEPARIN [Concomitant]
     Active Substance: HEPARIN SODIUM
     Dosage: THE FRACTIONATION DOSE FREQUENCY IS UNCERTAIN.
     Route: 041
     Dates: start: 20140416, end: 20140416
  6. HEPARIN [Concomitant]
     Active Substance: HEPARIN SODIUM
     Dosage: THE FRACTIONATION DOSE FREQUENCY IS UNCERTAIN. ?ACCORDING TO THE PHYSICIAN INSTRUCTION
     Route: 065
     Dates: start: 20140606, end: 20140606
  7. HEPARIN [Concomitant]
     Active Substance: HEPARIN SODIUM
     Dosage: THE FRACTIONATION DOSE FREQUENCY IS UNCERTAIN.
     Route: 041
     Dates: start: 20140528, end: 20140528
  8. HEPARIN [Concomitant]
     Active Substance: HEPARIN SODIUM
     Dosage: THE FRACTIONATION DOSE FREQUENCY IS UNCERTAIN.
     Route: 041
     Dates: start: 20140610, end: 20140610
  9. HEPARIN [Concomitant]
     Active Substance: HEPARIN SODIUM
     Dosage: THE FRACTIONATION DOSE FREQUENCY IS UNCERTAIN.
     Route: 041
     Dates: start: 20140617, end: 20140617
  10. HEPARIN [Concomitant]
     Active Substance: HEPARIN SODIUM
     Dosage: THE FRACTIONATION DOSE FREQUENCY IS UNCERTAIN.
     Route: 041
     Dates: start: 20140712, end: 20140712
  11. HEPARIN [Concomitant]
     Active Substance: HEPARIN SODIUM
     Dosage: THE FRACTIONATION DOSE FREQUENCY IS UNCERTAIN.
     Route: 041
     Dates: start: 20140814, end: 20140814
  12. HEPARIN [Concomitant]
     Active Substance: HEPARIN SODIUM
     Dosage: THE FRACTIONATION DOSE FREQUENCY IS UNCERTAIN.
     Route: 041
     Dates: start: 20140820, end: 20140820
  13. HEPARIN [Concomitant]
     Active Substance: HEPARIN SODIUM
     Dosage: THE FRACTIONATION DOSE FREQUENCY IS UNCERTAIN.
     Route: 041
     Dates: start: 20140904, end: 20140904
  14. HEPARIN [Concomitant]
     Active Substance: HEPARIN SODIUM
     Dosage: THE FRACTIONATION DOSE FREQUENCY IS UNCERTAIN.
     Route: 041
     Dates: start: 20140912, end: 20140912
  15. HEPARIN [Concomitant]
     Active Substance: HEPARIN SODIUM
     Dosage: THE FRACTIONATION DOSE FREQUENCY IS UNCERTAIN.
     Route: 041
     Dates: start: 20141028, end: 20141028
  16. HEPARIN [Concomitant]
     Active Substance: HEPARIN SODIUM
     Dosage: THE FRACTIONATION DOSE FREQUENCY IS UNCERTAIN. ?ACCORDING TO THE PHYSICIAN INSTRUCTION
     Route: 065
     Dates: start: 20141125, end: 20141125
  17. HEPARIN [Concomitant]
     Active Substance: HEPARIN SODIUM
     Dosage: THE FRACTIONATION DOSE FREQUENCY IS UNCERTAIN.
     Route: 041
     Dates: start: 20141113, end: 20141113
  18. SEFMAZON [Concomitant]
     Active Substance: CEFAZOLIN
     Dosage: THE FRACTIONATION DOSE FREQUENCY IS UNCERTAIN.
     Route: 042
     Dates: start: 20131216, end: 20131216
  19. FENTANYL. [Concomitant]
     Active Substance: FENTANYL
     Dosage: THE FRACTIONATION DOSE FREQUENCY IS UNCERTAIN.
     Route: 042
     Dates: start: 20131216, end: 20131216
  20. ULTIVA [Concomitant]
     Active Substance: REMIFENTANIL HYDROCHLORIDE
     Dosage: THE FRACTIONATION DOSE FREQUENCY IS UNCERTAIN.
     Route: 042
     Dates: start: 20140626, end: 20140626
  21. CHICHINA [Concomitant]
     Dosage: DOSAGE IS UNCERTAIN.
     Route: 042
     Dates: start: 20140919, end: 20140921
  22. HEPARIN SODIUM. [Concomitant]
     Active Substance: HEPARIN SODIUM
     Dosage: THE FRACTIONATION DOSE FREQUENCY IS UNCERTAIN.
     Route: 013
     Dates: start: 20140327, end: 20140327
  23. HEPARIN SODIUM. [Concomitant]
     Active Substance: HEPARIN SODIUM
     Dosage: DOSAGE IS UNCERTAIN.
     Route: 013
     Dates: start: 20140403, end: 20140403
  24. GLYCEREB [Concomitant]
     Dosage: THE FRACTIONATION DOSE FREQUENCY IS UNCERTAIN.
     Route: 042
     Dates: start: 20140219, end: 20140219
  25. GLYCEREB [Concomitant]
     Dosage: THE FRACTIONATION DOSE FREQUENCY IS UNCERTAIN.
     Route: 042
     Dates: start: 20140303, end: 20140303
  26. GLYCEREB [Concomitant]
     Dosage: THE FRACTIONATION DOSE FREQUENCY IS UNCERTAIN.
     Route: 042
     Dates: start: 20140324, end: 20140328
  27. GLYCEREB [Concomitant]
     Dosage: THE FRACTIONATION DOSE FREQUENCY IS UNCERTAIN.
     Route: 042
     Dates: start: 20140331, end: 20140401
  28. GLYCEREB [Concomitant]
     Dosage: THE FRACTIONATION DOSE FREQUENCY IS UNCERTAIN.
     Route: 042
     Dates: start: 20140509, end: 20140509
  29. GLYCEREB [Concomitant]
     Dosage: THE FRACTIONATION DOSE FREQUENCY IS UNCERTAIN.
     Route: 042
     Dates: start: 20140913, end: 20140913
  30. GLUCOSE [Concomitant]
     Active Substance: DEXTROSE
     Dosage: 50 DEXTROSE IN WATER?THE FRACTIONATION DOSE FREQUENCY IS UNCERTAIN.
     Route: 041
     Dates: start: 20131223, end: 20131225
  31. GRANISETRON [Concomitant]
     Active Substance: GRANISETRON
     Dosage: THE FRACTIONATION DOSE FREQUENCY IS UNCERTAIN.
     Route: 041
     Dates: start: 20131225, end: 20131225
  32. GRANISETRON [Concomitant]
     Active Substance: GRANISETRON
     Dosage: THE FRACTIONATION DOSE FREQUENCY IS UNCERTAIN.
     Route: 041
     Dates: start: 20140314, end: 20140314
  33. DECADRON [Concomitant]
     Active Substance: DEXAMETHASONE
     Dosage: THE FRACTIONATION DOSE FREQUENCY IS UNCERTAIN.
     Route: 041
     Dates: start: 20140205, end: 20140205
  34. DECADRON [Concomitant]
     Active Substance: DEXAMETHASONE
     Dosage: THE FRACTIONATION DOSE FREQUENCY IS UNCERTAIN.
     Route: 041
     Dates: start: 20140507, end: 20140507
  35. DECADRON [Concomitant]
     Active Substance: DEXAMETHASONE
     Dosage: THE FRACTIONATION DOSE FREQUENCY IS UNCERTAIN.
     Route: 024
     Dates: start: 20140703, end: 20140703
  36. DECADRON [Concomitant]
     Active Substance: DEXAMETHASONE
     Dosage: THE FRACTIONATION DOSE FREQUENCY IS UNCERTAIN.
     Route: 024
     Dates: start: 20140821, end: 20140821
  37. BETAMETHASONE. [Concomitant]
     Active Substance: BETAMETHASONE
     Route: 048
     Dates: start: 20140416, end: 20140417
  38. BETAMETHASONE. [Concomitant]
     Active Substance: BETAMETHASONE
     Route: 048
     Dates: start: 20141116, end: 20141117
  39. HICORT (JAPAN) [Concomitant]
     Dosage: THE FRACTIONATION DOSE FREQUENCY IS UNCERTAIN.
     Route: 042
     Dates: start: 20140220, end: 20140220
  40. HICORT (JAPAN) [Concomitant]
     Dosage: THE FRACTIONATION DOSE FREQUENCY IS UNCERTAIN.
     Route: 042
     Dates: start: 20140226, end: 20140226
  41. HICORT (JAPAN) [Concomitant]
     Dosage: THE FRACTIONATION DOSE FREQUENCY IS UNCERTAIN.
     Route: 042
     Dates: start: 20140302, end: 20140302
  42. HICORT (JAPAN) [Concomitant]
     Dosage: THE FRACTIONATION DOSE FREQUENCY IS UNCERTAIN.
     Route: 042
     Dates: start: 20140411, end: 20140411
  43. HICORT (JAPAN) [Concomitant]
     Dosage: THE FRACTIONATION DOSE FREQUENCY IS UNCERTAIN.
     Route: 042
     Dates: start: 20140917, end: 20140918
  44. HICORT (JAPAN) [Concomitant]
     Dosage: THE FRACTIONATION DOSE FREQUENCY IS UNCERTAIN.
     Route: 042
     Dates: start: 20140929, end: 20140929
  45. ALEVIATIN [Concomitant]
     Active Substance: PHENYTOIN SODIUM
     Dosage: THE FRACTIONATION DOSE FREQUENCY IS UNCERTAIN.
     Route: 041
     Dates: start: 20140304, end: 20140304
  46. ALEVIATIN [Concomitant]
     Active Substance: PHENYTOIN SODIUM
     Dosage: THE FRACTIONATION DOSE FREQUENCY IS UNCERTAIN.
     Route: 041
     Dates: start: 20140312, end: 20140315
  47. FAMOTIDINE. [Concomitant]
     Active Substance: FAMOTIDINE
     Route: 048
     Dates: start: 20140412, end: 20140505
  48. FAMOTIDINE. [Concomitant]
     Active Substance: FAMOTIDINE
     Route: 048
     Dates: start: 20140506, end: 20140506
  49. DIAZEPAM. [Concomitant]
     Active Substance: DIAZEPAM
     Dosage: THE FRACTIONATION DOSE FREQUENCY IS UNCERTAIN.
     Route: 041
     Dates: start: 20140606, end: 20140606
  50. ATARAX-P [Concomitant]
     Active Substance: HYDROXYZINE HYDROCHLORIDE
     Dosage: THE FRACTIONATION DOSE FREQUENCY IS UNCERTAIN.
     Route: 042
     Dates: start: 20140311, end: 20140311
  51. ATARAX-P [Concomitant]
     Active Substance: HYDROXYZINE HYDROCHLORIDE
     Dosage: THE FRACTIONATION DOSE FREQUENCY IS UNCERTAIN.
     Route: 042
     Dates: start: 20141002, end: 20141002
  52. ATARAX-P [Concomitant]
     Active Substance: HYDROXYZINE HYDROCHLORIDE
     Dosage: THE FRACTIONATION DOSE FREQUENCY IS UNCERTAIN.
     Route: 042
     Dates: start: 20141028, end: 20141028
  53. ATARAX-P [Concomitant]
     Active Substance: HYDROXYZINE HYDROCHLORIDE
     Dosage: THE FRACTIONATION DOSE FREQUENCY IS UNCERTAIN.
     Route: 042
     Dates: start: 20141225, end: 20141225
  54. VITAJECT [Concomitant]
     Active Substance: CYANOCOBALAMIN\PYRIDOXAMINE HYDROCHLORIDE\THIAMINE HYDROCHLORIDE
     Dosage: THE FRACTIONATION DOSE FREQUENCY IS UNCERTAIN.
     Route: 042
     Dates: start: 20140313, end: 20140320
  55. MEDLENIK [Concomitant]
     Active Substance: CUPRIC SULFATE\FERRIC CHLORIDE\MANGANESE CHLORIDE\POTASSIUM IODIDE\ZINC SULFATE
     Dosage: THE FRACTIONATION DOSE FREQUENCY IS UNCERTAIN.
     Route: 042
     Dates: start: 20140324, end: 20140326
  56. MEDLENIK [Concomitant]
     Active Substance: CUPRIC SULFATE\FERRIC CHLORIDE\MANGANESE CHLORIDE\POTASSIUM IODIDE\ZINC SULFATE
     Dosage: THE FRACTIONATION DOSE FREQUENCY IS UNCERTAIN.
     Route: 042
     Dates: start: 20140728, end: 20140801
  57. MEDLENIK [Concomitant]
     Active Substance: CUPRIC SULFATE\FERRIC CHLORIDE\MANGANESE CHLORIDE\POTASSIUM IODIDE\ZINC SULFATE
     Dosage: THE FRACTIONATION DOSE FREQUENCY IS UNCERTAIN.
     Route: 042
     Dates: start: 20140809, end: 20140813
  58. SOLDEM 3AG [Concomitant]
     Dosage: THE FRACTIONATION DOSE FREQUENCY IS UNCERTAIN.
     Route: 042
     Dates: start: 20140704, end: 20140704
  59. VITAMEDIN (JAPAN) [Concomitant]
     Dosage: THE FRACTIONATION DOSE FREQUENCY IS UNCERTAIN.
     Route: 042
     Dates: start: 20140702, end: 20140714
  60. CYLOCIDE [Concomitant]
     Active Substance: CYTARABINE
     Dosage: THE FRACTIONATION DOSE FREQUENCY IS UNCERTAIN.
     Route: 024
     Dates: start: 20140904, end: 20140904
  61. CYLOCIDE [Concomitant]
     Active Substance: CYTARABINE
     Dosage: THE FRACTIONATION DOSE FREQUENCY IS UNCERTAIN.
     Route: 024
     Dates: start: 20141225, end: 20141225
  62. METOCLOPRAMIDE. [Concomitant]
     Active Substance: METOCLOPRAMIDE
     Dosage: THE FRACTIONATION DOSE FREQUENCY IS UNCERTAIN.
     Route: 042
     Dates: start: 20140827, end: 20140828
  63. METOCLOPRAMIDE. [Concomitant]
     Active Substance: METOCLOPRAMIDE
     Dosage: THE FRACTIONATION DOSE FREQUENCY IS UNCERTAIN.
     Route: 042
     Dates: start: 20140901, end: 20140903
  64. SULFAMETHOXAZOLE/TRIMETHOPRIM [Concomitant]
     Active Substance: SULFAMETHOXAZOLE\TRIMETHOPRIM
     Route: 048
     Dates: start: 20141209, end: 20141213
  65. SODIUM CHLORIDE. [Concomitant]
     Active Substance: SODIUM CHLORIDE
     Dosage: THE FRACTIONATION DOSE FREQUENCY IS UNCERTAIN.
     Route: 042
     Dates: start: 20140717, end: 20140719
  66. SODIUM CHLORIDE. [Concomitant]
     Active Substance: SODIUM CHLORIDE
     Dosage: THE FRACTIONATION DOSE FREQUENCY IS UNCERTAIN.
     Route: 042
     Dates: start: 20140731, end: 20140731
  67. SODIUM CHLORIDE. [Concomitant]
     Active Substance: SODIUM CHLORIDE
     Dosage: THE FRACTIONATION DOSE FREQUENCY IS UNCERTAIN.
     Route: 042
     Dates: start: 20140808, end: 20140810
  68. SODIUM CHLORIDE. [Concomitant]
     Active Substance: SODIUM CHLORIDE
     Dosage: THE FRACTIONATION DOSE FREQUENCY IS UNCERTAIN.
     Route: 042
     Dates: start: 20140831, end: 20140912
  69. SODIUM CHLORIDE. [Concomitant]
     Active Substance: SODIUM CHLORIDE
     Dosage: THE FRACTIONATION DOSE FREQUENCY IS UNCERTAIN.
     Route: 042
     Dates: start: 20140916, end: 20140917
  70. SODIUM CHLORIDE. [Concomitant]
     Active Substance: SODIUM CHLORIDE
     Dosage: THE FRACTIONATION DOSE FREQUENCY IS UNCERTAIN.
     Route: 042
     Dates: start: 20140922, end: 20140922
  71. SODIUM CHLORIDE. [Concomitant]
     Active Substance: SODIUM CHLORIDE
     Dosage: THE FRACTIONATION DOSE FREQUENCY IS UNCERTAIN.
     Route: 042
     Dates: start: 20140923, end: 20140923
  72. SODIUM CHLORIDE. [Concomitant]
     Active Substance: SODIUM CHLORIDE
     Dosage: THE FRACTIONATION DOSE FREQUENCY IS UNCERTAIN. ?ACCORDING TO THE PHYSICIAN INSTRUCTION
     Route: 065
     Dates: start: 20141017, end: 20141017
  73. VANCOMYCIN HYDROCHLORIDE. [Concomitant]
     Active Substance: VANCOMYCIN HYDROCHLORIDE
     Dosage: THE FRACTIONATION DOSE FREQUENCY IS UNCERTAIN.
     Route: 042
     Dates: start: 20140806, end: 20140807
  74. ELNEOPA [Concomitant]
     Active Substance: UNSPECIFIED INGREDIENT
     Dosage: THE FRACTIONATION DOSE FREQUENCY IS UNCERTAIN. ?ACCORDING TO THE PHYSICIAN INSTRUCTION
     Route: 065
     Dates: start: 20141028, end: 20141028
  75. SOL-MELCORT [Concomitant]
     Active Substance: METHYLPREDNISOLONE SODIUM SUCCINATE
     Dosage: THE FRACTIONATION DOSE FREQUENCY IS UNCERTAIN.
     Route: 042
     Dates: start: 20141017, end: 20141017
  76. CEFAZOLIN SODIUM. [Concomitant]
     Active Substance: CEFAZOLIN SODIUM
     Dosage: THE FRACTIONATION DOSE FREQUENCY IS UNCERTAIN.
     Route: 042
     Dates: start: 20140919, end: 20140919
  77. AVASTIN [Suspect]
     Active Substance: BEVACIZUMAB
     Dosage: DOSAGE IS UNCERTAIN.
     Route: 041
     Dates: start: 20131127, end: 20131127
  78. AVASTIN [Suspect]
     Active Substance: BEVACIZUMAB
     Dosage: DOSAGE IS UNCERTAIN.
     Route: 041
     Dates: start: 20140521, end: 20140521
  79. AVASTIN [Suspect]
     Active Substance: BEVACIZUMAB
     Dosage: DOSAGE IS UNCERTAIN.
     Route: 041
     Dates: start: 20141028, end: 20141028
  80. AVASTIN [Suspect]
     Active Substance: BEVACIZUMAB
     Dosage: DOSAGE IS UNCERTAIN.
     Route: 041
     Dates: start: 20141111, end: 20141111
  81. ASVERIN (TIPEPIDINE HIBENZATE) [Concomitant]
     Active Substance: TIPEPIDINE HIBENZATE
     Route: 048
     Dates: end: 20131015
  82. LEVETIRACETAM. [Concomitant]
     Active Substance: LEVETIRACETAM
     Dosage: THE FRACTIONATION DOSE FREQUENCY IS UNCERTAIN. ?ACCORDING TO 1X PHYSICIAN INSTRUCTION
     Route: 048
     Dates: start: 20140102, end: 20140103
  83. LEVETIRACETAM. [Concomitant]
     Active Substance: LEVETIRACETAM
     Dosage: THE FRACTIONATION DOSE FREQUENCY IS UNCERTAIN. ?ACCORDING TO 1X PHYSICIAN INSTRUCTION
     Route: 048
     Dates: start: 20140207, end: 20140208
  84. LEVETIRACETAM. [Concomitant]
     Active Substance: LEVETIRACETAM
     Dosage: THE FRACTIONATION DOSE FREQUENCY IS UNCERTAIN. ?ACCORDING TO 1X PHYSICIAN INSTRUCTION
     Route: 048
     Dates: start: 20140507, end: 20140508
  85. LEVETIRACETAM. [Concomitant]
     Active Substance: LEVETIRACETAM
     Dosage: THE FRACTIONATION DOSE FREQUENCY IS UNCERTAIN. ?ACCORDING TO 1X PHYSICIAN INSTRUCTION
     Route: 048
     Dates: start: 20140509, end: 20140512
  86. LEVETIRACETAM. [Concomitant]
     Active Substance: LEVETIRACETAM
     Dosage: THE FRACTIONATION DOSE FREQUENCY IS UNCERTAIN. ?ACCORDING TO 1X PHYSICIAN INSTRUCTION
     Route: 048
     Dates: start: 20141020, end: 20141021
  87. LEVETIRACETAM. [Concomitant]
     Active Substance: LEVETIRACETAM
     Dosage: THE FRACTIONATION DOSE FREQUENCY IS UNCERTAIN. ?ACCORDING TO 1X PHYSICIAN INSTRUCTION
     Route: 048
     Dates: start: 20141028, end: 20141115
  88. TEGRETOL [Concomitant]
     Active Substance: CARBAMAZEPINE
     Route: 048
     Dates: start: 20131127, end: 20131128
  89. TEGRETOL [Concomitant]
     Active Substance: CARBAMAZEPINE
     Route: 048
     Dates: start: 20140205, end: 20140206
  90. TEGRETOL [Concomitant]
     Active Substance: CARBAMAZEPINE
     Route: 048
     Dates: start: 20141020, end: 20141021
  91. TEGRETOL [Concomitant]
     Active Substance: CARBAMAZEPINE
     Route: 048
     Dates: start: 20150114, end: 20150119
  92. NASEA [Concomitant]
     Active Substance: RAMOSETRON HYDROCHLORIDE
     Route: 048
     Dates: start: 20131030, end: 20131103
  93. NASEA [Concomitant]
     Active Substance: RAMOSETRON HYDROCHLORIDE
     Route: 048
     Dates: start: 20131127, end: 20131201
  94. BACTRAMIN [Concomitant]
     Active Substance: SULFAMETHOXAZOLE\TRIMETHOPRIM
     Route: 048
     Dates: start: 20131225, end: 20131226
  95. MAGNESIUM OXIDE. [Concomitant]
     Active Substance: MAGNESIUM OXIDE
     Route: 048
     Dates: start: 20140409, end: 20140410
  96. MAGNESIUM OXIDE. [Concomitant]
     Active Substance: MAGNESIUM OXIDE
     Route: 048
     Dates: start: 20140412, end: 20140505
  97. MAGNESIUM OXIDE. [Concomitant]
     Active Substance: MAGNESIUM OXIDE
     Route: 048
     Dates: start: 20140507, end: 20140508
  98. MAGNESIUM OXIDE. [Concomitant]
     Active Substance: MAGNESIUM OXIDE
     Route: 048
     Dates: start: 20141116, end: 20141116
  99. MAGNESIUM OXIDE. [Concomitant]
     Active Substance: MAGNESIUM OXIDE
     Route: 048
     Dates: start: 20150106, end: 20150112
  100. SOLDEM 1 [Concomitant]
     Active Substance: DEXTROSE\SODIUM CHLORIDE\SODIUM LACTATE
     Dosage: THE FRACTIONATION DOSE FREQUENCY IS UNCERTAIN.
     Route: 042
     Dates: start: 20140226, end: 20140226
  101. SOLDEM 1 [Concomitant]
     Active Substance: DEXTROSE\SODIUM CHLORIDE\SODIUM LACTATE
     Dosage: THE FRACTIONATION DOSE FREQUENCY IS UNCERTAIN.
     Route: 042
     Dates: start: 20140606, end: 20140606
  102. DIAPP [Concomitant]
     Active Substance: DIAZEPAM
     Dosage: THE FRACTIONATION DOSE FREQUENCY IS UNCERTAIN. ?ACCORDING TO THE PHYSICIAN INSTRUCTION
     Route: 054
     Dates: start: 20141217, end: 20141217
  103. CARBAZOCHROME SODIUM SULFONATE [Concomitant]
     Active Substance: CARBAZOCHROME SODIUM SULFONATE
     Route: 048
     Dates: start: 20140628, end: 20140702
  104. CARBAZOCHROME SODIUM SULFONATE [Concomitant]
     Active Substance: CARBAZOCHROME SODIUM SULFONATE
     Route: 048
     Dates: start: 20140714, end: 20140717
  105. FAMOTIDINE. [Concomitant]
     Active Substance: FAMOTIDINE
     Dosage: THE FRACTIONATION DOSE FREQUENCY IS UNCERTAIN.
     Route: 041
     Dates: start: 20131216, end: 20131216
  106. VEPESIDE [Concomitant]
     Active Substance: ETOPOSIDE
     Route: 048
     Dates: start: 20140108, end: 20140113
  107. VEPESIDE [Concomitant]
     Active Substance: ETOPOSIDE
     Route: 048
     Dates: start: 20140305, end: 20140312
  108. HEPARIN [Concomitant]
     Active Substance: HEPARIN SODIUM
     Dosage: THE FRACTIONATION DOSE FREQUENCY IS UNCERTAIN.
     Route: 041
     Dates: start: 20131227, end: 20131228
  109. HEPARIN [Concomitant]
     Active Substance: HEPARIN SODIUM
     Dosage: THE FRACTIONATION DOSE FREQUENCY IS UNCERTAIN.
     Route: 041
     Dates: start: 20140219, end: 20140220
  110. HEPARIN [Concomitant]
     Active Substance: HEPARIN SODIUM
     Dosage: THE FRACTIONATION DOSE FREQUENCY IS UNCERTAIN.
     Route: 041
     Dates: start: 20140404, end: 20140404
  111. HEPARIN [Concomitant]
     Active Substance: HEPARIN SODIUM
     Dosage: THE FRACTIONATION DOSE FREQUENCY IS UNCERTAIN.
     Route: 041
     Dates: start: 20140717, end: 20140717
  112. HEPARIN [Concomitant]
     Active Substance: HEPARIN SODIUM
     Dosage: THE FRACTIONATION DOSE FREQUENCY IS UNCERTAIN.
     Route: 041
     Dates: start: 20140802, end: 20140802
  113. HEPARIN [Concomitant]
     Active Substance: HEPARIN SODIUM
     Dosage: THE FRACTIONATION DOSE FREQUENCY IS UNCERTAIN.
     Route: 041
     Dates: start: 20140813, end: 20140813
  114. HEPARIN [Concomitant]
     Active Substance: HEPARIN SODIUM
     Dosage: THE FRACTIONATION DOSE FREQUENCY IS UNCERTAIN.
     Route: 041
     Dates: start: 20140918, end: 20140918
  115. HEPARIN [Concomitant]
     Active Substance: HEPARIN SODIUM
     Dosage: THE FRACTIONATION DOSE FREQUENCY IS UNCERTAIN. ?ACCORDING TO THE PHYSICIAN INSTRUCTION
     Route: 065
     Dates: start: 20141116, end: 20141116
  116. CHICHINA [Concomitant]
     Dosage: DOSAGE IS UNCERTAIN.
     Route: 042
     Dates: start: 20131217, end: 20131217
  117. HEPARIN SODIUM. [Concomitant]
     Active Substance: HEPARIN SODIUM
     Dosage: THE FRACTIONATION DOSE FREQUENCY IS UNCERTAIN.
     Route: 013
     Dates: start: 20131216, end: 20131216
  118. GLYCEREB [Concomitant]
     Dosage: THE FRACTIONATION DOSE FREQUENCY IS UNCERTAIN.
     Route: 042
     Dates: start: 20140310, end: 20140310
  119. GLYCEREB [Concomitant]
     Dosage: THE FRACTIONATION DOSE FREQUENCY IS UNCERTAIN.
     Route: 042
     Dates: start: 20140507, end: 20140508
  120. GLYCEREB [Concomitant]
     Dosage: THE FRACTIONATION DOSE FREQUENCY IS UNCERTAIN.
     Route: 042
     Dates: start: 20140821, end: 20140821
  121. GLYCEREB [Concomitant]
     Dosage: THE FRACTIONATION DOSE FREQUENCY IS UNCERTAIN.
     Route: 042
     Dates: start: 20140822, end: 20140825
  122. GLUCOSE [Concomitant]
     Active Substance: DEXTROSE
     Dosage: 50 DEXTROSE IN WATER?THE FRACTIONATION DOSE FREQUENCY IS UNCERTAIN.
     Route: 041
     Dates: start: 20131219, end: 20131219
  123. GLUCOSE [Concomitant]
     Active Substance: DEXTROSE
     Dosage: 50 DEXTROSE IN WATER?THE FRACTIONATION DOSE FREQUENCY IS UNCERTAIN.
     Route: 041
     Dates: start: 20140629, end: 20140629
  124. GLUCOSE [Concomitant]
     Active Substance: DEXTROSE
     Dosage: 50 DEXTROSE IN WATER?THE FRACTIONATION DOSE FREQUENCY IS UNCERTAIN.
     Route: 041
     Dates: start: 20140919, end: 20140919
  125. GRANISETRON [Concomitant]
     Active Substance: GRANISETRON
     Dosage: THE FRACTIONATION DOSE FREQUENCY IS UNCERTAIN.
     Route: 041
     Dates: start: 20140313, end: 20140313
  126. GRANISETRON [Concomitant]
     Active Substance: GRANISETRON
     Dosage: THE FRACTIONATION DOSE FREQUENCY IS UNCERTAIN.
     Route: 041
     Dates: start: 20140710, end: 20140711
  127. GRANISETRON [Concomitant]
     Active Substance: GRANISETRON
     Dosage: THE FRACTIONATION DOSE FREQUENCY IS UNCERTAIN.
     Route: 041
     Dates: start: 20140821, end: 20140822
  128. GRANISETRON [Concomitant]
     Active Substance: GRANISETRON
     Dosage: THE FRACTIONATION DOSE FREQUENCY IS UNCERTAIN.
     Route: 041
     Dates: start: 20141204, end: 20141204
  129. BETAMETHASONE. [Concomitant]
     Active Substance: BETAMETHASONE
     Route: 048
     Dates: start: 20140320, end: 20140322
  130. BETAMETHASONE. [Concomitant]
     Active Substance: BETAMETHASONE
     Route: 048
     Dates: start: 20140328, end: 20140330
  131. BETAMETHASONE. [Concomitant]
     Active Substance: BETAMETHASONE
     Route: 048
     Dates: start: 20140411, end: 20140415
  132. BETAMETHASONE. [Concomitant]
     Active Substance: BETAMETHASONE
     Route: 048
     Dates: start: 20141111, end: 20141115
  133. HICORT (JAPAN) [Concomitant]
     Dosage: THE FRACTIONATION DOSE FREQUENCY IS UNCERTAIN.
     Route: 042
     Dates: start: 20140228, end: 20140228
  134. HICORT (JAPAN) [Concomitant]
     Dosage: THE FRACTIONATION DOSE FREQUENCY IS UNCERTAIN.
     Route: 042
     Dates: start: 20140310, end: 20140310
  135. HICORT (JAPAN) [Concomitant]
     Dosage: THE FRACTIONATION DOSE FREQUENCY IS UNCERTAIN.
     Route: 042
     Dates: start: 20140311, end: 20140320
  136. HICORT (JAPAN) [Concomitant]
     Dosage: THE FRACTIONATION DOSE FREQUENCY IS UNCERTAIN.
     Route: 042
     Dates: start: 20140403, end: 20140404
  137. HICORT (JAPAN) [Concomitant]
     Dosage: THE FRACTIONATION DOSE FREQUENCY IS UNCERTAIN.
     Route: 042
     Dates: start: 20140408, end: 20140410
  138. HICORT (JAPAN) [Concomitant]
     Dosage: THE FRACTIONATION DOSE FREQUENCY IS UNCERTAIN.
     Route: 042
     Dates: start: 20140916, end: 20140916
  139. PICOSULFATE [Concomitant]
     Active Substance: SODIUM PICOSULFATE
     Route: 048
     Dates: start: 20140312, end: 20140312
  140. ATARAX-P [Concomitant]
     Active Substance: HYDROXYZINE HYDROCHLORIDE
     Dosage: THE FRACTIONATION DOSE FREQUENCY IS UNCERTAIN.
     Route: 042
     Dates: start: 20141017, end: 20141017
  141. ATARAX-P [Concomitant]
     Active Substance: HYDROXYZINE HYDROCHLORIDE
     Dosage: THE FRACTIONATION DOSE FREQUENCY IS UNCERTAIN.
     Route: 042
     Dates: start: 20141111, end: 20141111
  142. VITAJECT [Concomitant]
     Active Substance: CYANOCOBALAMIN\PYRIDOXAMINE HYDROCHLORIDE\THIAMINE HYDROCHLORIDE
     Dosage: THE FRACTIONATION DOSE FREQUENCY IS UNCERTAIN.
     Route: 042
     Dates: start: 20140322, end: 20140322
  143. VITAJECT [Concomitant]
     Active Substance: CYANOCOBALAMIN\PYRIDOXAMINE HYDROCHLORIDE\THIAMINE HYDROCHLORIDE
     Dosage: THE FRACTIONATION DOSE FREQUENCY IS UNCERTAIN.
     Route: 042
     Dates: start: 20140324, end: 20140326
  144. VITAJECT [Concomitant]
     Active Substance: CYANOCOBALAMIN\PYRIDOXAMINE HYDROCHLORIDE\THIAMINE HYDROCHLORIDE
     Dosage: THE FRACTIONATION DOSE FREQUENCY IS UNCERTAIN.
     Route: 042
     Dates: start: 20140715, end: 20140719
  145. VITAJECT [Concomitant]
     Active Substance: CYANOCOBALAMIN\PYRIDOXAMINE HYDROCHLORIDE\THIAMINE HYDROCHLORIDE
     Dosage: THE FRACTIONATION DOSE FREQUENCY IS UNCERTAIN.
     Route: 042
     Dates: start: 20141015, end: 20141017
  146. SOLDEM 3AG [Concomitant]
     Dosage: THE FRACTIONATION DOSE FREQUENCY IS UNCERTAIN.
     Route: 042
     Dates: start: 20140702, end: 20140703
  147. CYLOCIDE [Concomitant]
     Active Substance: CYTARABINE
     Dosage: THE FRACTIONATION DOSE FREQUENCY IS UNCERTAIN.
     Route: 024
     Dates: start: 20140710, end: 20140710
  148. METOCLOPRAMIDE. [Concomitant]
     Active Substance: METOCLOPRAMIDE
     Dosage: THE FRACTIONATION DOSE FREQUENCY IS UNCERTAIN.
     Route: 042
     Dates: start: 20140816, end: 20140816
  149. SULFAMETHOXAZOLE/TRIMETHOPRIM [Concomitant]
     Active Substance: SULFAMETHOXAZOLE\TRIMETHOPRIM
     Route: 048
     Dates: start: 20140713, end: 20140715
  150. SULFAMETHOXAZOLE/TRIMETHOPRIM [Concomitant]
     Active Substance: SULFAMETHOXAZOLE\TRIMETHOPRIM
     Route: 048
     Dates: start: 20140722, end: 20140724
  151. SULFAMETHOXAZOLE/TRIMETHOPRIM [Concomitant]
     Active Substance: SULFAMETHOXAZOLE\TRIMETHOPRIM
     Route: 048
     Dates: start: 20141017, end: 20141019
  152. SULFAMETHOXAZOLE/TRIMETHOPRIM [Concomitant]
     Active Substance: SULFAMETHOXAZOLE\TRIMETHOPRIM
     Route: 048
     Dates: start: 20141028, end: 20141030
  153. SODIUM CHLORIDE. [Concomitant]
     Active Substance: SODIUM CHLORIDE
     Dosage: THE FRACTIONATION DOSE FREQUENCY IS UNCERTAIN.
     Route: 042
     Dates: start: 20140807, end: 20140807
  154. SODIUM CHLORIDE. [Concomitant]
     Active Substance: SODIUM CHLORIDE
     Dosage: THE FRACTIONATION DOSE FREQUENCY IS UNCERTAIN.
     Route: 042
     Dates: start: 20140918, end: 20140918
  155. POLARAMINE [Concomitant]
     Active Substance: DEXCHLORPHENIRAMINE MALEATE
     Dosage: THE FRACTIONATION DOSE FREQUENCY IS UNCERTAIN.
     Route: 041
     Dates: start: 20140718, end: 20140718
  156. VANCOMYCIN HYDROCHLORIDE. [Concomitant]
     Active Substance: VANCOMYCIN HYDROCHLORIDE
     Dosage: THE FRACTIONATION DOSE FREQUENCY IS UNCERTAIN.
     Route: 042
     Dates: start: 20140815, end: 20140817
  157. VANCOMYCIN HYDROCHLORIDE. [Concomitant]
     Active Substance: VANCOMYCIN HYDROCHLORIDE
     Dosage: THE FRACTIONATION DOSE FREQUENCY IS UNCERTAIN. ?1G FOR VANCOMYCIN HYDROCHLORIDE INTRAVENOUS DRIP
     Route: 042
     Dates: start: 20150114, end: 20150114
  158. VANCOMYCIN HYDROCHLORIDE. [Concomitant]
     Active Substance: VANCOMYCIN HYDROCHLORIDE
     Dosage: THE FRACTIONATION DOSE FREQUENCY IS UNCERTAIN. ?1G FOR VANCOMYCIN HYDROCHLORIDE INTRAVENOUS DRIP
     Route: 042
     Dates: start: 20150115, end: 20150119
  159. ANHYDROUS ETHANOL [Concomitant]
     Dosage: THE FRACTIONATION DOSE FREQUENCY IS UNCERTAIN.
     Route: 042
     Dates: start: 20140807, end: 20140812
  160. ANHYDROUS ETHANOL [Concomitant]
     Dosage: THE FRACTIONATION DOSE FREQUENCY IS UNCERTAIN.
     Route: 042
     Dates: start: 20141211, end: 20141212
  161. PENTAGIN [Concomitant]
     Active Substance: PENTAZOCINE HYDROCHLORIDE
     Dosage: THE FRACTIONATION DOSE FREQUENCY IS UNCERTAIN.
     Route: 041
     Dates: start: 20140920, end: 20140920
  162. AVASTIN [Suspect]
     Active Substance: BEVACIZUMAB
     Dosage: DOSAGE IS UNCERTAIN.
     Route: 041
     Dates: start: 20140722, end: 20140722
  163. AVASTIN [Suspect]
     Active Substance: BEVACIZUMAB
     Dosage: DOSAGE IS UNCERTAIN.
     Route: 041
     Dates: start: 20141125, end: 20141125
  164. TEMODAL [Suspect]
     Active Substance: TEMOZOLOMIDE
     Dosage: DOSAGE IS UNCERTAIN.
     Route: 048
     Dates: end: 20131006
  165. TEMODAL [Suspect]
     Active Substance: TEMOZOLOMIDE
     Dosage: DOSAGE IS UNCERTAIN.
     Route: 048
     Dates: start: 20141021, end: 20141025
  166. TEMODAL [Suspect]
     Active Substance: TEMOZOLOMIDE
     Dosage: DOSAGE IS UNCERTAIN.
     Route: 048
     Dates: start: 20141224, end: 20141228
  167. CARBOCISTEINE [Concomitant]
     Active Substance: CARBOCYSTEINE
     Route: 048
     Dates: end: 20131015
  168. PERIACTIN [Concomitant]
     Active Substance: CYPROHEPTADINE HYDROCHLORIDE
     Route: 048
     Dates: end: 20131015
  169. LEVETIRACETAM. [Concomitant]
     Active Substance: LEVETIRACETAM
     Dosage: THE FRACTIONATION DOSE FREQUENCY IS UNCERTAIN. ?ACCORDING TO 1X PHYSICIAN INSTRUCTION
     Route: 048
     Dates: start: 20131217, end: 20131227
  170. LEVETIRACETAM. [Concomitant]
     Active Substance: LEVETIRACETAM
     Dosage: THE FRACTIONATION DOSE FREQUENCY IS UNCERTAIN. ?ACCORDING TO 1X PHYSICIAN INSTRUCTION
     Route: 048
     Dates: start: 20140209, end: 20140210
  171. LEVETIRACETAM. [Concomitant]
     Active Substance: LEVETIRACETAM
     Dosage: THE FRACTIONATION DOSE FREQUENCY IS UNCERTAIN. ?ACCORDING TO 1X PHYSICIAN INSTRUCTION
     Route: 048
     Dates: start: 20140408, end: 20140410
  172. LEVETIRACETAM. [Concomitant]
     Active Substance: LEVETIRACETAM
     Dosage: THE FRACTIONATION DOSE FREQUENCY IS UNCERTAIN. ?ACCORDING TO 1X PHYSICIAN INSTRUCTION
     Route: 048
     Dates: start: 20140610, end: 20140611
  173. LEVETIRACETAM. [Concomitant]
     Active Substance: LEVETIRACETAM
     Dosage: THE FRACTIONATION DOSE FREQUENCY IS UNCERTAIN. ?ACCORDING TO 1X PHYSICIAN INSTRUCTION
     Route: 048
     Dates: start: 20140612, end: 20140701
  174. LEVETIRACETAM. [Concomitant]
     Active Substance: LEVETIRACETAM
     Dosage: THE FRACTIONATION DOSE FREQUENCY IS UNCERTAIN. ?ACCORDING TO 1X PHYSICIAN INSTRUCTION
     Route: 048
     Dates: start: 20150114, end: 20150119
  175. TEGRETOL [Concomitant]
     Active Substance: CARBAMAZEPINE
     Route: 048
     Dates: start: 20131029, end: 20131029
  176. TEGRETOL [Concomitant]
     Active Substance: CARBAMAZEPINE
     Route: 048
     Dates: start: 20140606, end: 20140924
  177. NASEA [Concomitant]
     Active Substance: RAMOSETRON HYDROCHLORIDE
     Route: 048
     Dates: start: 20140702, end: 20140706
  178. BACTRAMIN [Concomitant]
     Active Substance: SULFAMETHOXAZOLE\TRIMETHOPRIM
     Route: 048
     Dates: start: 20131228, end: 20140102
  179. BACTRAMIN [Concomitant]
     Active Substance: SULFAMETHOXAZOLE\TRIMETHOPRIM
     Route: 048
     Dates: start: 20140305, end: 20140307
  180. ALMETA [Concomitant]
     Active Substance: ALCLOMETASONE DIPROPIONATE
     Route: 003
     Dates: start: 20131016, end: 20131016
  181. RINDERON V [Concomitant]
     Active Substance: BETAMETHASONE VALERATE
     Route: 003
     Dates: start: 20131016, end: 20131016
  182. MAGNESIUM OXIDE. [Concomitant]
     Active Substance: MAGNESIUM OXIDE
     Route: 048
     Dates: start: 20131218, end: 20131219
  183. MAGNESIUM OXIDE. [Concomitant]
     Active Substance: MAGNESIUM OXIDE
     Route: 048
     Dates: start: 20140401, end: 20140402
  184. SOLDEM 1 [Concomitant]
     Active Substance: DEXTROSE\SODIUM CHLORIDE\SODIUM LACTATE
     Dosage: THE FRACTIONATION DOSE FREQUENCY IS UNCERTAIN.
     Route: 042
     Dates: start: 20140728, end: 20140728
  185. AMBROXOL HYDROCHLORIDE [Concomitant]
     Active Substance: AMBROXOL HYDROCHLORIDE
     Route: 048
     Dates: start: 20131113, end: 20131210
  186. NEOSTELIN GREEN [Concomitant]
     Dosage: THE FRACTIONATION DOSE FREQUENCY IS UNCERTAIN.
     Route: 049
     Dates: start: 20140509, end: 20140509
  187. NEOSTELIN GREEN [Concomitant]
     Dosage: THE FRACTIONATION DOSE FREQUENCY IS UNCERTAIN.
     Route: 049
     Dates: start: 20140714, end: 20140714
  188. CARBAZOCHROME SODIUM SULFONATE [Concomitant]
     Active Substance: CARBAZOCHROME SODIUM SULFONATE
     Route: 048
     Dates: start: 20140306, end: 20140312
  189. TRANEXAMIC ACID. [Concomitant]
     Active Substance: TRANEXAMIC ACID
     Route: 048
     Dates: start: 20140306, end: 20140312
  190. TRANEXAMIC ACID. [Concomitant]
     Active Substance: TRANEXAMIC ACID
     Route: 048
     Dates: start: 20140714, end: 20140724
  191. FAMOTIDINE. [Concomitant]
     Active Substance: FAMOTIDINE
     Dosage: THE FRACTIONATION DOSE FREQUENCY IS UNCERTAIN.
     Route: 041
     Dates: start: 20140312, end: 20140314
  192. FAMOTIDINE. [Concomitant]
     Active Substance: FAMOTIDINE
     Dosage: THE FRACTIONATION DOSE FREQUENCY IS UNCERTAIN.
     Route: 041
     Dates: start: 20141016, end: 20141017
  193. VEPESIDE [Concomitant]
     Active Substance: ETOPOSIDE
     Route: 048
     Dates: start: 20140327, end: 20140406
  194. VEPESIDE [Concomitant]
     Active Substance: ETOPOSIDE
     Route: 048
     Dates: start: 20140409, end: 20140410
  195. HEPARIN [Concomitant]
     Active Substance: HEPARIN SODIUM
     Dosage: THE FRACTIONATION DOSE FREQUENCY IS UNCERTAIN.
     Route: 041
     Dates: start: 20140205, end: 20140205
  196. HEPARIN [Concomitant]
     Active Substance: HEPARIN SODIUM
     Dosage: THE FRACTIONATION DOSE FREQUENCY IS UNCERTAIN.
     Route: 041
     Dates: start: 20140206, end: 20140206
  197. HEPARIN [Concomitant]
     Active Substance: HEPARIN SODIUM
     Dosage: THE FRACTIONATION DOSE FREQUENCY IS UNCERTAIN.
     Route: 041
     Dates: start: 20140312, end: 20140312
  198. HEPARIN [Concomitant]
     Active Substance: HEPARIN SODIUM
     Dosage: THE FRACTIONATION DOSE FREQUENCY IS UNCERTAIN.
     Route: 041
     Dates: start: 20140313, end: 20140313
  199. HEPARIN [Concomitant]
     Active Substance: HEPARIN SODIUM
     Dosage: THE FRACTIONATION DOSE FREQUENCY IS UNCERTAIN.
     Route: 041
     Dates: start: 20140318, end: 20140318
  200. HEPARIN [Concomitant]
     Active Substance: HEPARIN SODIUM
     Dosage: THE FRACTIONATION DOSE FREQUENCY IS UNCERTAIN.
     Route: 041
     Dates: start: 20140401, end: 20140401
  201. HEPARIN [Concomitant]
     Active Substance: HEPARIN SODIUM
     Dosage: THE FRACTIONATION DOSE FREQUENCY IS UNCERTAIN.
     Route: 041
     Dates: start: 20140408, end: 20140409
  202. HEPARIN [Concomitant]
     Active Substance: HEPARIN SODIUM
     Dosage: THE FRACTIONATION DOSE FREQUENCY IS UNCERTAIN.
     Route: 041
     Dates: start: 20140410, end: 20140410
  203. HEPARIN [Concomitant]
     Active Substance: HEPARIN SODIUM
     Dosage: THE FRACTIONATION DOSE FREQUENCY IS UNCERTAIN.
     Route: 041
     Dates: start: 20140423, end: 20140423
  204. HEPARIN [Concomitant]
     Active Substance: HEPARIN SODIUM
     Dosage: THE FRACTIONATION DOSE FREQUENCY IS UNCERTAIN.
     Route: 041
     Dates: start: 20140605, end: 20140605
  205. HEPARIN [Concomitant]
     Active Substance: HEPARIN SODIUM
     Dosage: THE FRACTIONATION DOSE FREQUENCY IS UNCERTAIN.
     Route: 041
     Dates: start: 20140922, end: 20140922
  206. FENTANYL. [Concomitant]
     Active Substance: FENTANYL
     Dosage: THE FRACTIONATION DOSE FREQUENCY IS UNCERTAIN.
     Route: 042
     Dates: start: 20140919, end: 20140919
  207. CHICHINA [Concomitant]
     Dosage: THE FRACTIONATION DOSE FREQUENCY IS UNCERTAIN.
     Route: 042
     Dates: start: 20140626, end: 20140626
  208. RIBAVARIN [Concomitant]
     Active Substance: RIBAVIRIN
     Dosage: THE FRACTIONATION DOSE FREQUENCY IS UNCERTAIN.
     Route: 042
     Dates: start: 20140303, end: 20140303
  209. HEPARIN SODIUM. [Concomitant]
     Active Substance: HEPARIN SODIUM
     Dosage: DOSAGE IS UNCERTAIN.
     Route: 013
     Dates: start: 20140331, end: 20140331
  210. HEPARIN SODIUM. [Concomitant]
     Active Substance: HEPARIN SODIUM
     Dosage: THE FRACTIONATION DOSE FREQUENCY IS UNCERTAIN.
     Route: 013
     Dates: start: 20140401, end: 20140401
  211. GLYCEREB [Concomitant]
     Dosage: THE FRACTIONATION DOSE FREQUENCY IS UNCERTAIN.
     Route: 042
     Dates: start: 20140302, end: 20140302
  212. GLYCEREB [Concomitant]
     Dosage: THE FRACTIONATION DOSE FREQUENCY IS UNCERTAIN.
     Route: 042
     Dates: start: 20140411, end: 20140411
  213. GLYCEREB [Concomitant]
     Dosage: THE FRACTIONATION DOSE FREQUENCY IS UNCERTAIN.
     Route: 042
     Dates: start: 20140929, end: 20140929
  214. GLYCEREB [Concomitant]
     Dosage: THE FRACTIONATION DOSE FREQUENCY IS UNCERTAIN.
     Route: 042
     Dates: start: 20141016, end: 20141017
  215. GLUCOSE [Concomitant]
     Active Substance: DEXTROSE
     Dosage: 50 DEXTROSE IN WATER?THE FRACTIONATION DOSE FREQUENCY IS UNCERTAIN.
     Route: 041
     Dates: start: 20140303, end: 20140304
  216. GLUCOSE [Concomitant]
     Active Substance: DEXTROSE
     Dosage: 50 DEXTROSE IN WATER?THE FRACTIONATION DOSE FREQUENCY IS UNCERTAIN.
     Route: 041
     Dates: start: 20140627, end: 20140628
  217. GRANISETRON [Concomitant]
     Active Substance: GRANISETRON
     Dosage: THE FRACTIONATION DOSE FREQUENCY IS UNCERTAIN.
     Route: 041
     Dates: start: 20140604, end: 20140604
  218. BETAMETHASONE. [Concomitant]
     Active Substance: BETAMETHASONE
     Route: 048
     Dates: start: 20140214, end: 20140224
  219. BETAMETHASONE. [Concomitant]
     Active Substance: BETAMETHASONE
     Route: 048
     Dates: start: 20140401, end: 20140407
  220. HICORT (JAPAN) [Concomitant]
     Dosage: THE FRACTIONATION DOSE FREQUENCY IS UNCERTAIN.
     Route: 042
     Dates: start: 20140219, end: 20140219
  221. HICORT (JAPAN) [Concomitant]
     Dosage: THE FRACTIONATION DOSE FREQUENCY IS UNCERTAIN.
     Route: 042
     Dates: start: 20140331, end: 20140401
  222. HICORT (JAPAN) [Concomitant]
     Dosage: THE FRACTIONATION DOSE FREQUENCY IS UNCERTAIN.
     Route: 042
     Dates: start: 20140930, end: 20141002
  223. FAMOTIDINE. [Concomitant]
     Active Substance: FAMOTIDINE
     Route: 048
     Dates: start: 20140401, end: 20140402
  224. FAMOTIDINE. [Concomitant]
     Active Substance: FAMOTIDINE
     Route: 048
     Dates: start: 20140409, end: 20140410
  225. FAMOTIDINE. [Concomitant]
     Active Substance: FAMOTIDINE
     Route: 048
     Dates: start: 20140507, end: 20140508
  226. ATARAX-P [Concomitant]
     Active Substance: HYDROXYZINE HYDROCHLORIDE
     Dosage: THE FRACTIONATION DOSE FREQUENCY IS UNCERTAIN.
     Route: 042
     Dates: start: 20140904, end: 20140904
  227. ATARAX-P [Concomitant]
     Active Substance: HYDROXYZINE HYDROCHLORIDE
     Dosage: THE FRACTIONATION DOSE FREQUENCY IS UNCERTAIN.
     Route: 042
     Dates: start: 20140920, end: 20140920
  228. ATARAX-P [Concomitant]
     Active Substance: HYDROXYZINE HYDROCHLORIDE
     Dosage: THE FRACTIONATION DOSE FREQUENCY IS UNCERTAIN.
     Route: 042
     Dates: start: 20141106, end: 20141106
  229. ATARAX-P [Concomitant]
     Active Substance: HYDROXYZINE HYDROCHLORIDE
     Dosage: THE FRACTIONATION DOSE FREQUENCY IS UNCERTAIN.
     Route: 042
     Dates: start: 20150120, end: 20150120
  230. VITAJECT [Concomitant]
     Active Substance: CYANOCOBALAMIN\PYRIDOXAMINE HYDROCHLORIDE\THIAMINE HYDROCHLORIDE
     Dosage: THE FRACTIONATION DOSE FREQUENCY IS UNCERTAIN.
     Route: 042
     Dates: start: 20140722, end: 20140725
  231. VITAJECT [Concomitant]
     Active Substance: CYANOCOBALAMIN\PYRIDOXAMINE HYDROCHLORIDE\THIAMINE HYDROCHLORIDE
     Dosage: THE FRACTIONATION DOSE FREQUENCY IS UNCERTAIN.
     Route: 042
     Dates: start: 20140804, end: 20140807
  232. VITAJECT [Concomitant]
     Active Substance: CYANOCOBALAMIN\PYRIDOXAMINE HYDROCHLORIDE\THIAMINE HYDROCHLORIDE
     Dosage: THE FRACTIONATION DOSE FREQUENCY IS UNCERTAIN.
     Route: 042
     Dates: start: 20140819, end: 20140829
  233. VITAMEDIN (JAPAN) [Concomitant]
     Dosage: THE FRACTIONATION DOSE FREQUENCY IS UNCERTAIN.
     Route: 042
     Dates: start: 20141214, end: 20141216
  234. METHOTREXATE [Concomitant]
     Active Substance: METHOTREXATE
     Dosage: THE FRACTIONATION DOSE FREQUENCY IS UNCERTAIN.
     Route: 024
     Dates: start: 20140710, end: 20140710
  235. METOCLOPRAMIDE. [Concomitant]
     Active Substance: METOCLOPRAMIDE
     Dosage: THE FRACTIONATION DOSE FREQUENCY IS UNCERTAIN.
     Route: 042
     Dates: start: 20140823, end: 20140823
  236. METOCLOPRAMIDE. [Concomitant]
     Active Substance: METOCLOPRAMIDE
     Dosage: THE FRACTIONATION DOSE FREQUENCY IS UNCERTAIN.
     Route: 042
     Dates: start: 20140824, end: 20140825
  237. SULFAMETHOXAZOLE/TRIMETHOPRIM [Concomitant]
     Active Substance: SULFAMETHOXAZOLE\TRIMETHOPRIM
     Route: 048
     Dates: start: 20140819, end: 20140821
  238. SULFAMETHOXAZOLE/TRIMETHOPRIM [Concomitant]
     Active Substance: SULFAMETHOXAZOLE\TRIMETHOPRIM
     Route: 048
     Dates: start: 20140916, end: 20140918
  239. NEUTROGIN [Concomitant]
     Active Substance: LENOGRASTIM
     Dosage: THE FRACTIONATION DOSE FREQUENCY IS UNCERTAIN.
     Route: 041
     Dates: start: 20140713, end: 20140719
  240. FIRSTCIN [Concomitant]
     Active Substance: CEFOZOPRAN HYDROCHLORIDE
     Dosage: THE FRACTIONATION DOSE FREQUENCY IS UNCERTAIN.
     Route: 041
     Dates: start: 20140718, end: 20140718
  241. SODIUM CHLORIDE. [Concomitant]
     Active Substance: SODIUM CHLORIDE
     Dosage: THE FRACTIONATION DOSE FREQUENCY IS UNCERTAIN.
     Route: 042
     Dates: start: 20140715, end: 20140716
  242. SODIUM CHLORIDE. [Concomitant]
     Active Substance: SODIUM CHLORIDE
     Dosage: THE FRACTIONATION DOSE FREQUENCY IS UNCERTAIN.
     Route: 042
     Dates: start: 20140813, end: 20140813
  243. SODIUM CHLORIDE. [Concomitant]
     Active Substance: SODIUM CHLORIDE
     Dosage: THE FRACTIONATION DOSE FREQUENCY IS UNCERTAIN.
     Route: 042
     Dates: start: 20140830, end: 20140830
  244. SODIUM CHLORIDE. [Concomitant]
     Active Substance: SODIUM CHLORIDE
     Dosage: THE FRACTIONATION DOSE FREQUENCY IS UNCERTAIN.
     Route: 042
     Dates: start: 20141104, end: 20141110
  245. VANCOMYCIN HYDROCHLORIDE. [Concomitant]
     Active Substance: VANCOMYCIN HYDROCHLORIDE
     Dosage: THE FRACTIONATION DOSE FREQUENCY IS UNCERTAIN.
     Route: 042
     Dates: start: 20141106, end: 20141106
  246. ELNEOPA [Concomitant]
     Active Substance: UNSPECIFIED INGREDIENT
     Dosage: THE FRACTIONATION DOSE FREQUENCY IS UNCERTAIN.
     Route: 042
     Dates: start: 20141104, end: 20141108
  247. CEFAZOLIN SODIUM. [Concomitant]
     Active Substance: CEFAZOLIN SODIUM
     Dosage: THE FRACTIONATION DOSE FREQUENCY IS UNCERTAIN.
     Route: 042
     Dates: start: 20140920, end: 20140922
  248. AVASTIN [Suspect]
     Active Substance: BEVACIZUMAB
     Dosage: DOSAGE IS UNCERTAIN.
     Route: 041
     Dates: start: 20140604, end: 20140604
  249. AVASTIN [Suspect]
     Active Substance: BEVACIZUMAB
     Dosage: DOSAGE IS UNCERTAIN.
     Route: 041
     Dates: start: 20140805, end: 20140805
  250. AVASTIN [Suspect]
     Active Substance: BEVACIZUMAB
     Dosage: DOSAGE IS UNCERTAIN.
     Route: 041
     Dates: start: 20140819, end: 20140819
  251. CARBOPLATIN. [Suspect]
     Active Substance: CARBOPLATIN
     Indication: GLIOBLASTOMA
     Dosage: THE FRACTIONATION DOSE FREQUENCY IS UNCERTAIN.
     Route: 041
     Dates: start: 20140312, end: 20140312
  252. ASVERIN (TIPEPIDINE HIBENZATE) [Concomitant]
     Active Substance: TIPEPIDINE HIBENZATE
     Route: 048
     Dates: start: 20131223, end: 20140103
  253. CARBOCISTEINE [Concomitant]
     Active Substance: CARBOCYSTEINE
     Route: 048
     Dates: start: 20131113, end: 20131210
  254. LEVETIRACETAM. [Concomitant]
     Active Substance: LEVETIRACETAM
     Dosage: THE FRACTIONATION DOSE FREQUENCY IS UNCERTAIN. ?ACCORDING TO 1X PHYSICIAN INSTRUCTION
     Route: 048
     Dates: start: 20131030, end: 20131108
  255. LEVETIRACETAM. [Concomitant]
     Active Substance: LEVETIRACETAM
     Dosage: THE FRACTIONATION DOSE FREQUENCY IS UNCERTAIN. ?ACCORDING TO 1X PHYSICIAN INSTRUCTION
     Route: 048
     Dates: start: 20141017, end: 20141019
  256. LEVETIRACETAM. [Concomitant]
     Active Substance: LEVETIRACETAM
     Dosage: THE FRACTIONATION DOSE FREQUENCY IS UNCERTAIN. ?ACCORDING TO 1XPHYSICIAN INSTRUCTION
     Route: 048
     Dates: start: 20150106, end: 20150113
  257. TEGRETOL [Concomitant]
     Active Substance: CARBAMAZEPINE
     Route: 048
     Dates: start: 20131022, end: 20131028
  258. TEGRETOL [Concomitant]
     Active Substance: CARBAMAZEPINE
     Route: 048
     Dates: start: 20131129, end: 20131210
  259. TEGRETOL [Concomitant]
     Active Substance: CARBAMAZEPINE
     Route: 048
     Dates: start: 20131213, end: 20131213
  260. TEGRETOL [Concomitant]
     Active Substance: CARBAMAZEPINE
     Route: 048
     Dates: start: 20140204, end: 20140204
  261. TEGRETOL [Concomitant]
     Active Substance: CARBAMAZEPINE
     Route: 048
     Dates: start: 20140220, end: 20140223
  262. TEGRETOL [Concomitant]
     Active Substance: CARBAMAZEPINE
     Route: 048
     Dates: start: 20141003, end: 20141003
  263. TEGRETOL [Concomitant]
     Active Substance: CARBAMAZEPINE
     Route: 048
     Dates: start: 20141015, end: 20141016
  264. NASEA [Concomitant]
     Active Substance: RAMOSETRON HYDROCHLORIDE
     Route: 048
     Dates: start: 20140828, end: 20140901
  265. BACTRAMIN [Concomitant]
     Active Substance: SULFAMETHOXAZOLE\TRIMETHOPRIM
     Route: 048
     Dates: start: 20131030, end: 20131104
  266. MAGNESIUM OXIDE. [Concomitant]
     Active Substance: MAGNESIUM OXIDE
     Route: 048
     Dates: start: 20131223, end: 20131229
  267. MAGNESIUM OXIDE. [Concomitant]
     Active Substance: MAGNESIUM OXIDE
     Route: 048
     Dates: start: 20140506, end: 20140506
  268. MAGNESIUM OXIDE. [Concomitant]
     Active Substance: MAGNESIUM OXIDE
     Route: 048
     Dates: start: 20140509, end: 20140512
  269. MAGNESIUM OXIDE. [Concomitant]
     Active Substance: MAGNESIUM OXIDE
     Route: 048
     Dates: start: 20140513, end: 20140605
  270. SODIUM FERROUS CITRATE [Concomitant]
     Active Substance: SODIUM FERROUS CITRATE
     Route: 048
     Dates: start: 20131213, end: 20131213
  271. SOLDEM 1 [Concomitant]
     Active Substance: DEXTROSE\SODIUM CHLORIDE\SODIUM LACTATE
     Dosage: THE FRACTIONATION DOSE FREQUENCY IS UNCERTAIN.
     Route: 042
     Dates: start: 20131022, end: 20131022
  272. DIAPP [Concomitant]
     Active Substance: DIAZEPAM
     Dosage: THE FRACTIONATION DOSE FREQUENCY IS UNCERTAIN. ?ACCORDING TO THE PHYSICIAN INSTRUCTION
     Route: 054
     Dates: start: 20131113, end: 20131113
  273. CARBAZOCHROME SODIUM SULFONATE [Concomitant]
     Active Substance: CARBAZOCHROME SODIUM SULFONATE
     Route: 048
     Dates: start: 20131228, end: 20140101
  274. CARBAZOCHROME SODIUM SULFONATE [Concomitant]
     Active Substance: CARBAZOCHROME SODIUM SULFONATE
     Route: 048
     Dates: start: 20140627, end: 20140703
  275. CARBAZOCHROME SODIUM SULFONATE [Concomitant]
     Active Substance: CARBAZOCHROME SODIUM SULFONATE
     Route: 048
     Dates: start: 20140718, end: 20140718
  276. VEPESIDE [Concomitant]
     Active Substance: ETOPOSIDE
     Route: 048
     Dates: start: 20140226, end: 20140304
  277. HEPARIN [Concomitant]
     Active Substance: HEPARIN SODIUM
     Dosage: THE FRACTIONATION DOSE FREQUENCY IS UNCERTAIN.
     Route: 041
     Dates: start: 20140212, end: 20140212
  278. HEPARIN [Concomitant]
     Active Substance: HEPARIN SODIUM
     Dosage: THE FRACTIONATION DOSE FREQUENCY IS UNCERTAIN.
     Route: 041
     Dates: start: 20140402, end: 20140402
  279. HEPARIN [Concomitant]
     Active Substance: HEPARIN SODIUM
     Dosage: THE FRACTIONATION DOSE FREQUENCY IS UNCERTAIN.
     Route: 041
     Dates: start: 20140521, end: 20140521
  280. HEPARIN [Concomitant]
     Active Substance: HEPARIN SODIUM
     Dosage: THE FRACTIONATION DOSE FREQUENCY IS UNCERTAIN.
     Route: 041
     Dates: start: 20140603, end: 20140604
  281. HEPARIN [Concomitant]
     Active Substance: HEPARIN SODIUM
     Dosage: THE FRACTIONATION DOSE FREQUENCY IS UNCERTAIN.
     Route: 041
     Dates: start: 20140606, end: 20140606
  282. HEPARIN [Concomitant]
     Active Substance: HEPARIN SODIUM
     Dosage: THE FRACTIONATION DOSE FREQUENCY IS UNCERTAIN.
     Route: 041
     Dates: start: 20140718, end: 20140718
  283. HEPARIN [Concomitant]
     Active Substance: HEPARIN SODIUM
     Dosage: THE FRACTIONATION DOSE FREQUENCY IS UNCERTAIN. ?ACCORDING TO THE PHYSICIAN INSTRUCTION
     Route: 065
     Dates: start: 20141017, end: 20141017
  284. SEFMAZON [Concomitant]
     Active Substance: CEFAZOLIN
     Dosage: THE FRACTIONATION DOSE FREQUENCY IS UNCERTAIN.
     Route: 042
     Dates: start: 20140303, end: 20140303
  285. SEFMAZON [Concomitant]
     Active Substance: CEFAZOLIN
     Dosage: THE FRACTIONATION DOSE FREQUENCY IS UNCERTAIN.
     Route: 042
     Dates: start: 20140304, end: 20140305
  286. FENTANYL. [Concomitant]
     Active Substance: FENTANYL
     Dosage: THE FRACTIONATION DOSE FREQUENCY IS UNCERTAIN.
     Route: 042
     Dates: start: 20140303, end: 20140303
  287. GLYCEREB [Concomitant]
     Dosage: THE FRACTIONATION DOSE FREQUENCY IS UNCERTAIN.
     Route: 042
     Dates: start: 20131217, end: 20131218
  288. GLYCEREB [Concomitant]
     Dosage: THE FRACTIONATION DOSE FREQUENCY IS UNCERTAIN.
     Route: 042
     Dates: start: 20140304, end: 20140307
  289. GLYCEREB [Concomitant]
     Dosage: THE FRACTIONATION DOSE FREQUENCY IS UNCERTAIN.
     Route: 042
     Dates: start: 20140311, end: 20140320
  290. GLYCEREB [Concomitant]
     Dosage: THE FRACTIONATION DOSE FREQUENCY IS UNCERTAIN.
     Route: 042
     Dates: start: 20140924, end: 20140928
  291. GLYCEREB [Concomitant]
     Dosage: THE FRACTIONATION DOSE FREQUENCY IS UNCERTAIN.
     Route: 042
     Dates: start: 20140930, end: 20141002
  292. DECADRON [Concomitant]
     Active Substance: DEXAMETHASONE
     Dosage: THE FRACTIONATION DOSE FREQUENCY IS UNCERTAIN.
     Route: 041
     Dates: start: 20140312, end: 20140312
  293. DECADRON [Concomitant]
     Active Substance: DEXAMETHASONE
     Dosage: THE FRACTIONATION DOSE FREQUENCY IS UNCERTAIN.
     Route: 041
     Dates: start: 20140409, end: 20140409
  294. DECADRON [Concomitant]
     Active Substance: DEXAMETHASONE
     Dosage: THE FRACTIONATION DOSE FREQUENCY IS UNCERTAIN.
     Route: 041
     Dates: start: 20140604, end: 20140604
  295. DECADRON [Concomitant]
     Active Substance: DEXAMETHASONE
     Dosage: THE FRACTIONATION DOSE FREQUENCY IS UNCERTAIN.
     Route: 024
     Dates: start: 20140710, end: 20140710
  296. DECADRON [Concomitant]
     Active Substance: DEXAMETHASONE
     Dosage: THE FRACTIONATION DOSE FREQUENCY IS UNCERTAIN.
     Route: 024
     Dates: start: 20141204, end: 20141204
  297. DECADRON [Concomitant]
     Active Substance: DEXAMETHASONE
     Dosage: THE FRACTIONATION DOSE FREQUENCY IS UNCERTAIN.
     Route: 024
     Dates: start: 20141225, end: 20141225
  298. BETAMETHASONE. [Concomitant]
     Active Substance: BETAMETHASONE
     Route: 048
     Dates: start: 20140506, end: 20140506
  299. BETAMETHASONE. [Concomitant]
     Active Substance: BETAMETHASONE
     Route: 048
     Dates: start: 20140507, end: 20140508
  300. BETAMETHASONE. [Concomitant]
     Active Substance: BETAMETHASONE
     Route: 048
     Dates: start: 20141030, end: 20141110
  301. HICORT (JAPAN) [Concomitant]
     Dosage: THE FRACTIONATION DOSE FREQUENCY IS UNCERTAIN.
     Route: 042
     Dates: start: 20140212, end: 20140213
  302. HICORT (JAPAN) [Concomitant]
     Dosage: THE FRACTIONATION DOSE FREQUENCY IS UNCERTAIN.
     Route: 042
     Dates: start: 20140305, end: 20140307
  303. FAMOTIDINE. [Concomitant]
     Active Substance: FAMOTIDINE
     Route: 048
     Dates: start: 20140315, end: 20140331
  304. FAMOTIDINE. [Concomitant]
     Active Substance: FAMOTIDINE
     Route: 048
     Dates: start: 20140403, end: 20140407
  305. FAMOTIDINE. [Concomitant]
     Active Substance: FAMOTIDINE
     Route: 048
     Dates: start: 20140509, end: 20140512
  306. FAMOTIDINE. [Concomitant]
     Active Substance: FAMOTIDINE
     Route: 048
     Dates: start: 20140513, end: 20140605
  307. DIAZEPAM. [Concomitant]
     Active Substance: DIAZEPAM
     Dosage: THE FRACTIONATION DOSE FREQUENCY IS UNCERTAIN.
     Route: 041
     Dates: start: 20141003, end: 20141003
  308. ATARAX-P [Concomitant]
     Active Substance: HYDROXYZINE HYDROCHLORIDE
     Dosage: THE FRACTIONATION DOSE FREQUENCY IS UNCERTAIN.
     Route: 042
     Dates: start: 20141125, end: 20141125
  309. VITAJECT [Concomitant]
     Active Substance: CYANOCOBALAMIN\PYRIDOXAMINE HYDROCHLORIDE\THIAMINE HYDROCHLORIDE
     Dosage: THE FRACTIONATION DOSE FREQUENCY IS UNCERTAIN.
     Route: 042
     Dates: start: 20140728, end: 20140801
  310. MEDLENIK [Concomitant]
     Active Substance: CUPRIC SULFATE\FERRIC CHLORIDE\MANGANESE CHLORIDE\POTASSIUM IODIDE\ZINC SULFATE
     Dosage: THE FRACTIONATION DOSE FREQUENCY IS UNCERTAIN.
     Route: 042
     Dates: start: 20140716, end: 20140719
  311. METOCLOPRAMIDE. [Concomitant]
     Active Substance: METOCLOPRAMIDE
     Dosage: THE FRACTIONATION DOSE FREQUENCY IS UNCERTAIN.
     Route: 042
     Dates: start: 20140713, end: 20140713
  312. METOCLOPRAMIDE. [Concomitant]
     Active Substance: METOCLOPRAMIDE
     Dosage: THE FRACTIONATION DOSE FREQUENCY IS UNCERTAIN.
     Route: 042
     Dates: start: 20140820, end: 20140820
  313. METOCLOPRAMIDE. [Concomitant]
     Active Substance: METOCLOPRAMIDE
     Dosage: THE FRACTIONATION DOSE FREQUENCY IS UNCERTAIN.
     Route: 042
     Dates: start: 20140821, end: 20140821
  314. SULFAMETHOXAZOLE/TRIMETHOPRIM [Concomitant]
     Active Substance: SULFAMETHOXAZOLE\TRIMETHOPRIM
     Route: 048
     Dates: start: 20140805, end: 20140807
  315. SULFAMETHOXAZOLE/TRIMETHOPRIM [Concomitant]
     Active Substance: SULFAMETHOXAZOLE\TRIMETHOPRIM
     Route: 048
     Dates: start: 20140902, end: 20140904
  316. SULFAMETHOXAZOLE/TRIMETHOPRIM [Concomitant]
     Active Substance: SULFAMETHOXAZOLE\TRIMETHOPRIM
     Route: 048
     Dates: start: 20141218, end: 20141220
  317. FIRSTCIN [Concomitant]
     Active Substance: CEFOZOPRAN HYDROCHLORIDE
     Dosage: THE FRACTIONATION DOSE FREQUENCY IS UNCERTAIN.
     Route: 041
     Dates: start: 20140714, end: 20140717
  318. FIRSTCIN [Concomitant]
     Active Substance: CEFOZOPRAN HYDROCHLORIDE
     Dosage: THE FRACTIONATION DOSE FREQUENCY IS UNCERTAIN.
     Route: 041
     Dates: start: 20140805, end: 20140805
  319. SODIUM CHLORIDE. [Concomitant]
     Active Substance: SODIUM CHLORIDE
     Dosage: THE FRACTIONATION DOSE FREQUENCY IS UNCERTAIN.
     Route: 042
     Dates: start: 20140728, end: 20140730
  320. SODIUM CHLORIDE. [Concomitant]
     Active Substance: SODIUM CHLORIDE
     Dosage: THE FRACTIONATION DOSE FREQUENCY IS UNCERTAIN.
     Route: 042
     Dates: start: 20140930, end: 20141002
  321. SODIUM CHLORIDE. [Concomitant]
     Active Substance: SODIUM CHLORIDE
     Dosage: THE FRACTIONATION DOSE FREQUENCY IS UNCERTAIN. ?ACCORDING TO THE PHYSICIAN INSTRUCTION
     Route: 065
     Dates: start: 20141209, end: 20141209
  322. SODIUM CHLORIDE. [Concomitant]
     Active Substance: SODIUM CHLORIDE
     Dosage: THE FRACTIONATION DOSE FREQUENCY IS UNCERTAIN.
     Route: 042
     Dates: start: 20141223, end: 20141228
  323. VANCOMYCIN HYDROCHLORIDE. [Concomitant]
     Active Substance: VANCOMYCIN HYDROCHLORIDE
     Dosage: THE FRACTIONATION DOSE FREQUENCY IS UNCERTAIN. ?1G FOR VANCOMYCIN HYDROCHLORIDE INTRAVENOUS DRIP
     Route: 042
     Dates: start: 20150120, end: 20150120
  324. SOL-MELCORT [Concomitant]
     Active Substance: METHYLPREDNISOLONE SODIUM SUCCINATE
     Dosage: THE FRACTIONATION DOSE FREQUENCY IS UNCERTAIN.
     Route: 042
     Dates: start: 20141028, end: 20141028
  325. AVASTIN [Suspect]
     Active Substance: BEVACIZUMAB
     Dosage: DOSAGE IS UNCERTAIN.
     Route: 041
     Dates: start: 20131030, end: 20131030
  326. AVASTIN [Suspect]
     Active Substance: BEVACIZUMAB
     Dosage: DOSAGE IS UNCERTAIN.
     Route: 041
     Dates: start: 20131113, end: 20131113
  327. AVASTIN [Suspect]
     Active Substance: BEVACIZUMAB
     Dosage: DOSAGE IS UNCERTAIN.
     Route: 041
     Dates: start: 20140409, end: 20140409
  328. AVASTIN [Suspect]
     Active Substance: BEVACIZUMAB
     Dosage: DOSAGE IS UNCERTAIN.
     Route: 041
     Dates: start: 20140507, end: 20140507
  329. LEVETIRACETAM. [Concomitant]
     Active Substance: LEVETIRACETAM
     Dosage: THE FRACTIONATION DOSE FREQUENCY IS UNCERTAIN. ?ACCORDING TO 1X PHYSICIAN INSTRUCTION
     Route: 048
     Dates: start: 20140411, end: 20140411
  330. LEVETIRACETAM. [Concomitant]
     Active Substance: LEVETIRACETAM
     Dosage: THE FRACTIONATION DOSE FREQUENCY IS UNCERTAIN. ?ACCORDING TO 1X PHYSICIAN INSTRUCTION
     Route: 048
     Dates: start: 20140606, end: 20140609
  331. LEVETIRACETAM. [Concomitant]
     Active Substance: LEVETIRACETAM
     Dosage: THE FRACTIONATION DOSE FREQUENCY IS UNCERTAIN. ?ACCORDING TO 1X PHYSICIAN INSTRUCTION
     Route: 048
     Dates: start: 20141015, end: 20141016
  332. LEVETIRACETAM. [Concomitant]
     Active Substance: LEVETIRACETAM
     Dosage: THE FRACTIONATION DOSE FREQUENCY IS UNCERTAIN. ?ACCORDING TO 1X PHYSICIAN INSTRUCTION
     Route: 048
     Dates: start: 20141209, end: 20141220
  333. TEGRETOL [Concomitant]
     Active Substance: CARBAMAZEPINE
     Route: 048
     Dates: end: 20131021
  334. TEGRETOL [Concomitant]
     Active Substance: CARBAMAZEPINE
     Route: 048
     Dates: start: 20131101, end: 20131126
  335. TEGRETOL [Concomitant]
     Active Substance: CARBAMAZEPINE
     Route: 048
     Dates: start: 20140226, end: 20140311
  336. TEGRETOL [Concomitant]
     Active Substance: CARBAMAZEPINE
     Route: 048
     Dates: start: 20140605, end: 20140605
  337. TEGRETOL [Concomitant]
     Active Substance: CARBAMAZEPINE
     Route: 048
     Dates: start: 20141017, end: 20141019
  338. TEGRETOL [Concomitant]
     Active Substance: CARBAMAZEPINE
     Route: 048
     Dates: start: 20141118, end: 20141123
  339. TEGRETOL [Concomitant]
     Active Substance: CARBAMAZEPINE
     Route: 048
     Dates: start: 20141125, end: 20141208
  340. BACTRAMIN [Concomitant]
     Active Substance: SULFAMETHOXAZOLE\TRIMETHOPRIM
     Route: 048
     Dates: end: 20131007
  341. BACTRAMIN [Concomitant]
     Active Substance: SULFAMETHOXAZOLE\TRIMETHOPRIM
     Route: 048
     Dates: start: 20131022, end: 20131024
  342. BACTRAMIN [Concomitant]
     Active Substance: SULFAMETHOXAZOLE\TRIMETHOPRIM
     Route: 048
     Dates: start: 20131127, end: 20131202
  343. MAGNESIUM OXIDE. [Concomitant]
     Active Substance: MAGNESIUM OXIDE
     Route: 048
     Dates: start: 20140311, end: 20140313
  344. PERAPRIN [Concomitant]
     Active Substance: METOCLOPRAMIDE
     Dosage: THE FRACTIONATION DOSE FREQUENCY IS UNCERTAIN.
     Route: 042
     Dates: start: 20131023, end: 20131023
  345. DIAPP [Concomitant]
     Active Substance: DIAZEPAM
     Dosage: THE FRACTIONATION DOSE FREQUENCY IS UNCERTAIN. ?ACCORDING TO THE PHYSICIAN INSTRUCTION?AT THE SPAS
     Route: 054
     Dates: start: 20140627, end: 20140627
  346. TRANEXAMIC ACID. [Concomitant]
     Active Substance: TRANEXAMIC ACID
     Route: 048
     Dates: start: 20140102, end: 20140103
  347. FAMOTIDINE. [Concomitant]
     Active Substance: FAMOTIDINE
     Dosage: THE FRACTIONATION DOSE FREQUENCY IS UNCERTAIN.
     Route: 041
     Dates: start: 20141015, end: 20141015
  348. VEPESIDE [Concomitant]
     Active Substance: ETOPOSIDE
     Route: 048
     Dates: start: 20140129, end: 20140218
  349. HEPARIN [Concomitant]
     Active Substance: HEPARIN SODIUM
     Dosage: THE FRACTIONATION DOSE FREQUENCY IS UNCERTAIN. ?ACCORDING TO THE PHYSICIAN INSTRUCTION
     Route: 065
     Dates: start: 20131228, end: 20131228
  350. HEPARIN [Concomitant]
     Active Substance: HEPARIN SODIUM
     Dosage: THE FRACTIONATION DOSE FREQUENCY IS UNCERTAIN.
     Route: 041
     Dates: start: 20140307, end: 20140307
  351. HEPARIN [Concomitant]
     Active Substance: HEPARIN SODIUM
     Dosage: THE FRACTIONATION DOSE FREQUENCY IS UNCERTAIN.
     Route: 041
     Dates: start: 20140411, end: 20140411
  352. HEPARIN [Concomitant]
     Active Substance: HEPARIN SODIUM
     Dosage: THE FRACTIONATION DOSE FREQUENCY IS UNCERTAIN.
     Route: 041
     Dates: start: 20140607, end: 20140607
  353. HEPARIN [Concomitant]
     Active Substance: HEPARIN SODIUM
     Dosage: THE FRACTIONATION DOSE FREQUENCY IS UNCERTAIN.
     Route: 041
     Dates: start: 20141002, end: 20141002
  354. HEPARIN [Concomitant]
     Active Substance: HEPARIN SODIUM
     Dosage: THE FRACTIONATION DOSE FREQUENCY IS UNCERTAIN.
     Route: 041
     Dates: start: 20141222, end: 20141222
  355. ULTIVA [Concomitant]
     Active Substance: REMIFENTANIL HYDROCHLORIDE
     Dosage: THE FRACTIONATION DOSE FREQUENCY IS UNCERTAIN.
     Route: 042
     Dates: start: 20140303, end: 20140303
  356. ULTIVA [Concomitant]
     Active Substance: REMIFENTANIL HYDROCHLORIDE
     Dosage: THE FRACTIONATION DOSE FREQUENCY IS UNCERTAIN.
     Route: 042
     Dates: start: 20140919, end: 20140919
  357. CHICHINA [Concomitant]
     Dosage: THE FRACTIONATION DOSE FREQUENCY IS UNCERTAIN.
     Route: 042
     Dates: start: 20131216, end: 20131216
  358. RIBAVARIN [Concomitant]
     Active Substance: RIBAVIRIN
     Dosage: THE FRACTIONATION DOSE FREQUENCY IS UNCERTAIN.
     Route: 042
     Dates: start: 20131216, end: 20131216
  359. RIBAVARIN [Concomitant]
     Active Substance: RIBAVIRIN
     Dosage: THE FRACTIONATION DOSE FREQUENCY IS UNCERTAIN.
     Route: 042
     Dates: start: 20140304, end: 20140305
  360. GLYCEREB [Concomitant]
     Dosage: THE FRACTIONATION DOSE FREQUENCY IS UNCERTAIN.
     Route: 042
     Dates: start: 20140214, end: 20140214
  361. GLYCEREB [Concomitant]
     Dosage: THE FRACTIONATION DOSE FREQUENCY IS UNCERTAIN.
     Route: 042
     Dates: start: 20140226, end: 20140226
  362. GLYCEREB [Concomitant]
     Dosage: THE FRACTIONATION DOSE FREQUENCY IS UNCERTAIN.
     Route: 042
     Dates: start: 20140403, end: 20140404
  363. GLYCEREB [Concomitant]
     Dosage: THE FRACTIONATION DOSE FREQUENCY IS UNCERTAIN.
     Route: 042
     Dates: start: 20140506, end: 20140506
  364. GLYCEREB [Concomitant]
     Dosage: THE FRACTIONATION DOSE FREQUENCY IS UNCERTAIN.
     Route: 042
     Dates: start: 20140826, end: 20140909
  365. GLYCEREB [Concomitant]
     Dosage: THE FRACTIONATION DOSE FREQUENCY IS UNCERTAIN.
     Route: 042
     Dates: start: 20140914, end: 20140918
  366. GLUCOSE [Concomitant]
     Active Substance: DEXTROSE
     Dosage: 50 DEXTROSE IN WATER?THE FRACTIONATION DOSE FREQUENCY IS UNCERTAIN.
     Route: 041
     Dates: start: 20131220, end: 20131222
  367. GLUCOSE [Concomitant]
     Active Substance: DEXTROSE
     Dosage: 50 DEXTROSE IN WATER?THE FRACTIONATION DOSE FREQUENCY IS UNCERTAIN.
     Route: 041
     Dates: start: 20140305, end: 20140306
  368. GLUCOSE [Concomitant]
     Active Substance: DEXTROSE
     Dosage: 50 DEXTROSE IN WATER?THE FRACTIONATION DOSE FREQUENCY IS UNCERTAIN.
     Route: 041
     Dates: start: 20140626, end: 20140626
  369. GLUCOSE [Concomitant]
     Active Substance: DEXTROSE
     Dosage: 50 DEXTROSE IN WATER?THE FRACTIONATION DOSE FREQUENCY IS UNCERTAIN.
     Route: 041
     Dates: start: 20140701, end: 20140701
  370. GRANISETRON [Concomitant]
     Active Substance: GRANISETRON
     Dosage: THE FRACTIONATION DOSE FREQUENCY IS UNCERTAIN.
     Route: 041
     Dates: start: 20140507, end: 20140507
  371. DECADRON [Concomitant]
     Active Substance: DEXAMETHASONE
     Dosage: THE FRACTIONATION DOSE FREQUENCY IS UNCERTAIN.
     Route: 041
     Dates: start: 20131225, end: 20131225
  372. BETAMETHASONE. [Concomitant]
     Active Substance: BETAMETHASONE
     Route: 048
     Dates: start: 20140509, end: 20140512
  373. BETAMETHASONE. [Concomitant]
     Active Substance: BETAMETHASONE
     Route: 048
     Dates: start: 20141118, end: 20141123
  374. TSUMURA GOREISAN EXTRACT GRANULES [Concomitant]
     Route: 048
     Dates: start: 20140220, end: 20140220
  375. HICORT (JAPAN) [Concomitant]
     Dosage: THE FRACTIONATION DOSE FREQUENCY IS UNCERTAIN.
     Route: 042
     Dates: start: 20140920, end: 20140922
  376. HICORT (JAPAN) [Concomitant]
     Dosage: THE FRACTIONATION DOSE FREQUENCY IS UNCERTAIN.
     Route: 042
     Dates: start: 20140923, end: 20140928
  377. ALEVIATIN [Concomitant]
     Active Substance: PHENYTOIN SODIUM
     Dosage: THE FRACTIONATION DOSE FREQUENCY IS UNCERTAIN.
     Route: 041
     Dates: start: 20140627, end: 20140627
  378. DIAZEPAM. [Concomitant]
     Active Substance: DIAZEPAM
     Dosage: THE FRACTIONATION DOSE FREQUENCY IS UNCERTAIN.
     Route: 041
     Dates: start: 20141214, end: 20141214
  379. ATARAX-P [Concomitant]
     Active Substance: HYDROXYZINE HYDROCHLORIDE
     Dosage: THE FRACTIONATION DOSE FREQUENCY IS UNCERTAIN.
     Route: 042
     Dates: start: 20140912, end: 20140912
  380. VITAJECT [Concomitant]
     Active Substance: CYANOCOBALAMIN\PYRIDOXAMINE HYDROCHLORIDE\THIAMINE HYDROCHLORIDE
     Dosage: THE FRACTIONATION DOSE FREQUENCY IS UNCERTAIN.
     Route: 042
     Dates: start: 20140808, end: 20140808
  381. VITAJECT [Concomitant]
     Active Substance: CYANOCOBALAMIN\PYRIDOXAMINE HYDROCHLORIDE\THIAMINE HYDROCHLORIDE
     Dosage: THE FRACTIONATION DOSE FREQUENCY IS UNCERTAIN.
     Route: 042
     Dates: start: 20140831, end: 20140912
  382. SOLDEM 3AG [Concomitant]
     Dosage: THE FRACTIONATION DOSE FREQUENCY IS UNCERTAIN.
     Route: 042
     Dates: start: 20140712, end: 20140712
  383. METHOTREXATE [Concomitant]
     Active Substance: METHOTREXATE
     Dosage: THE FRACTIONATION DOSE FREQUENCY IS UNCERTAIN.
     Route: 024
     Dates: start: 20140703, end: 20140703
  384. CYLOCIDE [Concomitant]
     Active Substance: CYTARABINE
     Dosage: THE FRACTIONATION DOSE FREQUENCY IS UNCERTAIN.
     Route: 024
     Dates: start: 20140703, end: 20140703
  385. METOCLOPRAMIDE. [Concomitant]
     Active Substance: METOCLOPRAMIDE
     Dosage: THE FRACTIONATION DOSE FREQUENCY IS UNCERTAIN.
     Route: 042
     Dates: start: 20140710, end: 20140710
  386. METOCLOPRAMIDE. [Concomitant]
     Active Substance: METOCLOPRAMIDE
     Dosage: THE FRACTIONATION DOSE FREQUENCY IS UNCERTAIN.
     Route: 042
     Dates: start: 20140826, end: 20140826
  387. SULFAMETHOXAZOLE/TRIMETHOPRIM [Concomitant]
     Active Substance: SULFAMETHOXAZOLE\TRIMETHOPRIM
     Route: 048
     Dates: start: 20140812, end: 20140814
  388. SULFAMETHOXAZOLE/TRIMETHOPRIM [Concomitant]
     Active Substance: SULFAMETHOXAZOLE\TRIMETHOPRIM
     Route: 048
     Dates: start: 20140826, end: 20140828
  389. SULFAMETHOXAZOLE/TRIMETHOPRIM [Concomitant]
     Active Substance: SULFAMETHOXAZOLE\TRIMETHOPRIM
     Route: 048
     Dates: start: 20141116, end: 20141121
  390. SULFAMETHOXAZOLE/TRIMETHOPRIM [Concomitant]
     Active Substance: SULFAMETHOXAZOLE\TRIMETHOPRIM
     Route: 048
     Dates: start: 20141203, end: 20141204
  391. SODIUM CHLORIDE. [Concomitant]
     Active Substance: SODIUM CHLORIDE
     Dosage: THE FRACTIONATION DOSE FREQUENCY IS UNCERTAIN.
     Route: 042
     Dates: start: 20140801, end: 20140801
  392. SODIUM CHLORIDE. [Concomitant]
     Active Substance: SODIUM CHLORIDE
     Dosage: THE FRACTIONATION DOSE FREQUENCY IS UNCERTAIN.
     Route: 042
     Dates: start: 20140819, end: 20140829
  393. SODIUM CHLORIDE. [Concomitant]
     Active Substance: SODIUM CHLORIDE
     Dosage: THE FRACTIONATION DOSE FREQUENCY IS UNCERTAIN.
     Route: 042
     Dates: start: 20141015, end: 20141016
  394. SODIUM CHLORIDE. [Concomitant]
     Active Substance: SODIUM CHLORIDE
     Dosage: THE FRACTIONATION DOSE FREQUENCY IS UNCERTAIN.
     Route: 042
     Dates: start: 20141017, end: 20141017
  395. SODIUM CHLORIDE. [Concomitant]
     Active Substance: SODIUM CHLORIDE
     Dosage: THE FRACTIONATION DOSE FREQUENCY IS UNCERTAIN. ?ACCORDING TO THE PHYSICIAN INSTRUCTION
     Route: 065
     Dates: start: 20141021, end: 20141021
  396. SODIUM CHLORIDE. [Concomitant]
     Active Substance: SODIUM CHLORIDE
     Dosage: THE FRACTIONATION DOSE FREQUENCY IS UNCERTAIN. ?ACCORDING TO THE PHYSICIAN INSTRUCTION
     Route: 065
     Dates: start: 20141028, end: 20141028
  397. VANCOMYCIN HYDROCHLORIDE. [Concomitant]
     Active Substance: VANCOMYCIN HYDROCHLORIDE
     Dosage: THE FRACTIONATION DOSE FREQUENCY IS UNCERTAIN.
     Route: 042
     Dates: start: 20140805, end: 20140805
  398. VANCOMYCIN HYDROCHLORIDE. [Concomitant]
     Active Substance: VANCOMYCIN HYDROCHLORIDE
     Dosage: THE FRACTIONATION DOSE FREQUENCY IS UNCERTAIN.
     Route: 042
     Dates: start: 20141107, end: 20141116
  399. VANCOMYCIN HYDROCHLORIDE. [Concomitant]
     Active Substance: VANCOMYCIN HYDROCHLORIDE
     Dosage: THE FRACTIONATION DOSE FREQUENCY IS UNCERTAIN.
     Route: 042
     Dates: start: 20141211, end: 20141212
  400. VANCOMYCIN HYDROCHLORIDE. [Concomitant]
     Active Substance: VANCOMYCIN HYDROCHLORIDE
     Dosage: THE FRACTIONATION DOSE FREQUENCY IS UNCERTAIN.
     Route: 042
     Dates: start: 20141213, end: 20141218
  401. ELNEOPA [Concomitant]
     Active Substance: UNSPECIFIED INGREDIENT
     Dosage: THE FRACTIONATION DOSE FREQUENCY IS UNCERTAIN. ?ACCORDING TO THE PHYSICIAN INSTRUCTION
     Route: 065
     Dates: start: 20141017, end: 20141017
  402. ELNEOPA [Concomitant]
     Active Substance: UNSPECIFIED INGREDIENT
     Dosage: THE FRACTIONATION DOSE FREQUENCY IS UNCERTAIN.
     Route: 042
     Dates: start: 20141017, end: 20141017
  403. MIDAZOLAM [Concomitant]
     Active Substance: MIDAZOLAM\MIDAZOLAM HYDROCHLORIDE
     Dosage: THE FRACTIONATION DOSE FREQUENCY IS UNCERTAIN.
     Route: 042
     Dates: start: 20150120, end: 20150120
  404. AVASTIN [Suspect]
     Active Substance: BEVACIZUMAB
     Dosage: DOSAGE IS UNCERTAIN.
     Route: 041
     Dates: start: 20140220, end: 20140220
  405. AVASTIN [Suspect]
     Active Substance: BEVACIZUMAB
     Dosage: DOSAGE IS UNCERTAIN.
     Route: 041
     Dates: start: 20140326, end: 20140326
  406. AVASTIN [Suspect]
     Active Substance: BEVACIZUMAB
     Dosage: DOSAGE IS UNCERTAIN.
     Route: 041
     Dates: start: 20140423, end: 20140423
  407. AVASTIN [Suspect]
     Active Substance: BEVACIZUMAB
     Dosage: DOSAGE IS UNCERTAIN.
     Route: 041
     Dates: start: 20140617, end: 20140617
  408. AVASTIN [Suspect]
     Active Substance: BEVACIZUMAB
     Dosage: DOSAGE IS UNCERTAIN.
     Route: 041
     Dates: start: 20141209, end: 20141209
  409. ETOPOSIDE. [Suspect]
     Active Substance: ETOPOSIDE
     Indication: GLIOBLASTOMA
     Dosage: THE FRACTIONATION DOSE FREQUENCY IS UNCERTAIN. ?DOSE INTERVAL UNCERTAINTY?TAKING ON THE 21ST AND T
     Route: 048
     Dates: start: 20131225, end: 20140707
  410. LEVETIRACETAM. [Concomitant]
     Active Substance: LEVETIRACETAM
     Dosage: REPORTED AS E KEPPRA?THE FRACTIONATION DOSE FREQUENCY IS UNCERTAIN. ?ACCORDING TO 1X PHYSICIAN INSTR
     Route: 048
     Dates: end: 20131011
  411. LEVETIRACETAM. [Concomitant]
     Active Substance: LEVETIRACETAM
     Dosage: THE FRACTIONATION DOSE FREQUENCY IS UNCERTAIN. ?ACCORDING TO 1X PHYSICIAN INSTRUCTION
     Route: 048
     Dates: start: 20140205, end: 20140206
  412. LEVETIRACETAM. [Concomitant]
     Active Substance: LEVETIRACETAM
     Dosage: THE FRACTIONATION DOSE FREQUENCY IS UNCERTAIN. ?ACCORDING TO 1X PHYSICIAN INSTRUCTION
     Route: 048
     Dates: start: 20140401, end: 20140407
  413. LEVETIRACETAM. [Concomitant]
     Active Substance: LEVETIRACETAM
     Dosage: THE FRACTIONATION DOSE FREQUENCY IS UNCERTAIN. ?ACCORDING TO 1X PHYSICIAN INSTRUCTION
     Route: 048
     Dates: start: 20140513, end: 20140604
  414. LEVETIRACETAM. [Concomitant]
     Active Substance: LEVETIRACETAM
     Dosage: THE FRACTIONATION DOSE FREQUENCY IS UNCERTAIN. ?ACCORDING TO 1X PHYSICIAN INSTRUCTION
     Route: 048
     Dates: start: 20140605, end: 20140605
  415. LEVETIRACETAM. [Concomitant]
     Active Substance: LEVETIRACETAM
     Dosage: THE FRACTIONATION DOSE FREQUENCY IS UNCERTAIN. ?ACCORDING TO 1X PHYSICIAN INSTRUCTION
     Route: 048
     Dates: start: 20141004, end: 20141009
  416. TEGRETOL [Concomitant]
     Active Substance: CARBAMAZEPINE
     Route: 048
     Dates: start: 20131030, end: 20131031
  417. TEGRETOL [Concomitant]
     Active Substance: CARBAMAZEPINE
     Route: 048
     Dates: start: 20131217, end: 20131227
  418. TEGRETOL [Concomitant]
     Active Substance: CARBAMAZEPINE
     Route: 048
     Dates: start: 20131228, end: 20140101
  419. TEGRETOL [Concomitant]
     Active Substance: CARBAMAZEPINE
     Route: 048
     Dates: start: 20140312, end: 20140331
  420. TEGRETOL [Concomitant]
     Active Substance: CARBAMAZEPINE
     Route: 048
     Dates: start: 20140408, end: 20140505
  421. TEGRETOL [Concomitant]
     Active Substance: CARBAMAZEPINE
     Route: 048
     Dates: start: 20140506, end: 20140506
  422. TEGRETOL [Concomitant]
     Active Substance: CARBAMAZEPINE
     Route: 048
     Dates: start: 20140513, end: 20140604
  423. TEGRETOL [Concomitant]
     Active Substance: CARBAMAZEPINE
     Route: 048
     Dates: start: 20140925, end: 20140925
  424. TEGRETOL [Concomitant]
     Active Substance: CARBAMAZEPINE
     Route: 048
     Dates: start: 20140926, end: 20141002
  425. TEGRETOL [Concomitant]
     Active Substance: CARBAMAZEPINE
     Route: 048
     Dates: start: 20141004, end: 20141009
  426. TEGRETOL [Concomitant]
     Active Substance: CARBAMAZEPINE
     Route: 048
     Dates: start: 20141209, end: 20141220
  427. TEGRETOL [Concomitant]
     Active Substance: CARBAMAZEPINE
     Route: 048
     Dates: start: 20150106, end: 20150113
  428. NASEA [Concomitant]
     Active Substance: RAMOSETRON HYDROCHLORIDE
     Route: 048
     Dates: start: 20140731, end: 20140804
  429. NASEA [Concomitant]
     Active Substance: RAMOSETRON HYDROCHLORIDE
     Route: 048
     Dates: start: 20141116, end: 20141120
  430. MAGNESIUM OXIDE. [Concomitant]
     Active Substance: MAGNESIUM OXIDE
     Route: 048
     Dates: start: 20131023, end: 20131029
  431. MAGNESIUM OXIDE. [Concomitant]
     Active Substance: MAGNESIUM OXIDE
     Route: 048
     Dates: start: 20140403, end: 20140407
  432. MAGNESIUM OXIDE. [Concomitant]
     Active Substance: MAGNESIUM OXIDE
     Route: 048
     Dates: start: 20141218, end: 20141221
  433. MAGNESIUM OXIDE. [Concomitant]
     Active Substance: MAGNESIUM OXIDE
     Route: 048
     Dates: start: 20141227, end: 20141230
  434. SOLDEM 1 [Concomitant]
     Active Substance: DEXTROSE\SODIUM CHLORIDE\SODIUM LACTATE
     Dosage: THE FRACTIONATION DOSE FREQUENCY IS UNCERTAIN.
     Route: 042
     Dates: start: 20140212, end: 20140212
  435. SOLDEM 1 [Concomitant]
     Active Substance: DEXTROSE\SODIUM CHLORIDE\SODIUM LACTATE
     Dosage: THE FRACTIONATION DOSE FREQUENCY IS UNCERTAIN.
     Route: 042
     Dates: start: 20140919, end: 20140919
  436. AMBROXOL HYDROCHLORIDE [Concomitant]
     Active Substance: AMBROXOL HYDROCHLORIDE
     Route: 048
     Dates: start: 20131223, end: 20140103
  437. DIAPP [Concomitant]
     Active Substance: DIAZEPAM
     Dosage: THE FRACTIONATION DOSE FREQUENCY IS UNCERTAIN. ?ACCORDING TO THE PHYSICIAN INSTRUCTION?AT THE SPAS
     Route: 054
     Dates: start: 20140610, end: 20140612
  438. DIAPP [Concomitant]
     Active Substance: DIAZEPAM
     Dosage: THE FRACTIONATION DOSE FREQUENCY IS UNCERTAIN. ?ACCORDING TO THE PHYSICIAN INSTRUCTION?AT THE SPAS
     Route: 054
     Dates: start: 20141214, end: 20141214
  439. NEOSTELIN GREEN [Concomitant]
     Dosage: THE FRACTIONATION DOSE FREQUENCY IS UNCERTAIN.
     Route: 049
     Dates: start: 20131217, end: 20131217
  440. NEOSTELIN GREEN [Concomitant]
     Dosage: THE FRACTIONATION DOSE FREQUENCY IS UNCERTAIN.
     Route: 049
     Dates: start: 20131224, end: 20131224
  441. CARBAZOCHROME SODIUM SULFONATE [Concomitant]
     Active Substance: CARBAZOCHROME SODIUM SULFONATE
     Route: 048
     Dates: start: 20131218, end: 20131227
  442. CARBAZOCHROME SODIUM SULFONATE [Concomitant]
     Active Substance: CARBAZOCHROME SODIUM SULFONATE
     Route: 048
     Dates: start: 20140719, end: 20140724
  443. TRANEXAMIC ACID. [Concomitant]
     Active Substance: TRANEXAMIC ACID
     Route: 048
     Dates: start: 20140627, end: 20140703
  444. FAMOTIDINE. [Concomitant]
     Active Substance: FAMOTIDINE
     Dosage: THE FRACTIONATION DOSE FREQUENCY IS UNCERTAIN.
     Route: 041
     Dates: start: 20140303, end: 20140304
  445. FAMOTIDINE. [Concomitant]
     Active Substance: FAMOTIDINE
     Dosage: THE FRACTIONATION DOSE FREQUENCY IS UNCERTAIN.
     Route: 041
     Dates: start: 20140311, end: 20140311
  446. FAMOTIDINE. [Concomitant]
     Active Substance: FAMOTIDINE
     Dosage: THE FRACTIONATION DOSE FREQUENCY IS UNCERTAIN.
     Route: 041
     Dates: start: 20140926, end: 20140926
  447. VEPESIDE [Concomitant]
     Active Substance: ETOPOSIDE
     Route: 048
     Dates: start: 20131225, end: 20131227
  448. VEPESIDE [Concomitant]
     Active Substance: ETOPOSIDE
     Route: 048
     Dates: start: 20131228, end: 20140101
  449. HEPARIN [Concomitant]
     Active Substance: HEPARIN SODIUM
     Dosage: THE FRACTIONATION DOSE FREQUENCY IS UNCERTAIN.
     Route: 041
     Dates: start: 20140115, end: 20140115
  450. HEPARIN [Concomitant]
     Active Substance: HEPARIN SODIUM
     Dosage: THE FRACTIONATION DOSE FREQUENCY IS UNCERTAIN.
     Route: 041
     Dates: start: 20140204, end: 20140204
  451. HEPARIN [Concomitant]
     Active Substance: HEPARIN SODIUM
     Dosage: THE FRACTIONATION DOSE FREQUENCY IS UNCERTAIN.
     Route: 041
     Dates: start: 20140328, end: 20140328
  452. HEPARIN [Concomitant]
     Active Substance: HEPARIN SODIUM
     Dosage: THE FRACTIONATION DOSE FREQUENCY IS UNCERTAIN.
     Route: 041
     Dates: start: 20140720, end: 20140720
  453. HEPARIN [Concomitant]
     Active Substance: HEPARIN SODIUM
     Dosage: THE FRACTIONATION DOSE FREQUENCY IS UNCERTAIN.
     Route: 041
     Dates: start: 20140724, end: 20140724
  454. HEPARIN [Concomitant]
     Active Substance: HEPARIN SODIUM
     Dosage: THE FRACTIONATION DOSE FREQUENCY IS UNCERTAIN.
     Route: 041
     Dates: start: 20140726, end: 20140726
  455. HEPARIN [Concomitant]
     Active Substance: HEPARIN SODIUM
     Dosage: THE FRACTIONATION DOSE FREQUENCY IS UNCERTAIN.
     Route: 041
     Dates: start: 20140816, end: 20140816
  456. SEFMAZON [Concomitant]
     Active Substance: CEFAZOLIN
     Dosage: THE FRACTIONATION DOSE FREQUENCY IS UNCERTAIN.
     Route: 042
     Dates: start: 20131217, end: 20131219
  457. CHICHINA [Concomitant]
     Dosage: DOSAGE IS UNCERTAIN.
     Route: 042
     Dates: start: 20140304, end: 20140305
  458. CHICHINA [Concomitant]
     Dosage: THE FRACTIONATION DOSE FREQUENCY IS UNCERTAIN.
     Route: 042
     Dates: start: 20140713, end: 20140713
  459. RIBAVARIN [Concomitant]
     Active Substance: RIBAVIRIN
     Dosage: THE FRACTIONATION DOSE FREQUENCY IS UNCERTAIN.
     Route: 042
     Dates: start: 20140713, end: 20140713
  460. RIBAVARIN [Concomitant]
     Active Substance: RIBAVIRIN
     Dosage: THE FRACTIONATION DOSE FREQUENCY IS UNCERTAIN.
     Route: 042
     Dates: start: 20140919, end: 20140921
  461. GLYCEREB [Concomitant]
     Dosage: THE FRACTIONATION DOSE FREQUENCY IS UNCERTAIN.
     Route: 042
     Dates: start: 20140919, end: 20140922
  462. GLUCOSE [Concomitant]
     Active Substance: DEXTROSE
     Dosage: 50 DEXTROSE IN WATER?THE FRACTIONATION DOSE FREQUENCY IS UNCERTAIN.
     Route: 041
     Dates: start: 20140312, end: 20140312
  463. BETAMETHASONE. [Concomitant]
     Active Substance: BETAMETHASONE
     Route: 048
     Dates: start: 20140418, end: 20140505
  464. BETAMETHASONE. [Concomitant]
     Active Substance: BETAMETHASONE
     Route: 048
     Dates: start: 20140513, end: 20140515
  465. HICORT (JAPAN) [Concomitant]
     Dosage: THE FRACTIONATION DOSE FREQUENCY IS UNCERTAIN.
     Route: 042
     Dates: start: 20140227, end: 20140227
  466. ALEVIATIN [Concomitant]
     Active Substance: PHENYTOIN SODIUM
     Dosage: THE FRACTIONATION DOSE FREQUENCY IS UNCERTAIN.
     Route: 041
     Dates: start: 20140628, end: 20140704
  467. ALEVIATIN [Concomitant]
     Active Substance: PHENYTOIN SODIUM
     Dosage: THE FRACTIONATION DOSE FREQUENCY IS UNCERTAIN.
     Route: 041
     Dates: start: 20140705, end: 20140705
  468. FAMOTIDINE. [Concomitant]
     Active Substance: FAMOTIDINE
     Route: 048
     Dates: start: 20140411, end: 20140411
  469. ATARAX-P [Concomitant]
     Active Substance: HYDROXYZINE HYDROCHLORIDE
     Dosage: THE FRACTIONATION DOSE FREQUENCY IS UNCERTAIN.
     Route: 042
     Dates: start: 20140922, end: 20140922
  470. ATARAX-P [Concomitant]
     Active Substance: HYDROXYZINE HYDROCHLORIDE
     Dosage: THE FRACTIONATION DOSE FREQUENCY IS UNCERTAIN.
     Route: 042
     Dates: start: 20141204, end: 20141204
  471. VITAJECT [Concomitant]
     Active Substance: CYANOCOBALAMIN\PYRIDOXAMINE HYDROCHLORIDE\THIAMINE HYDROCHLORIDE
     Dosage: THE FRACTIONATION DOSE FREQUENCY IS UNCERTAIN.
     Route: 042
     Dates: start: 20140809, end: 20140816
  472. VITAJECT [Concomitant]
     Active Substance: CYANOCOBALAMIN\PYRIDOXAMINE HYDROCHLORIDE\THIAMINE HYDROCHLORIDE
     Dosage: THE FRACTIONATION DOSE FREQUENCY IS UNCERTAIN.
     Route: 042
     Dates: start: 20140915, end: 20140918
  473. VITAJECT [Concomitant]
     Active Substance: CYANOCOBALAMIN\PYRIDOXAMINE HYDROCHLORIDE\THIAMINE HYDROCHLORIDE
     Dosage: THE FRACTIONATION DOSE FREQUENCY IS UNCERTAIN.
     Route: 042
     Dates: start: 20140922, end: 20141002
  474. MEDLENIK [Concomitant]
     Active Substance: CUPRIC SULFATE\FERRIC CHLORIDE\MANGANESE CHLORIDE\POTASSIUM IODIDE\ZINC SULFATE
     Dosage: THE FRACTIONATION DOSE FREQUENCY IS UNCERTAIN.
     Route: 042
     Dates: start: 20140804, end: 20140807
  475. POSTERISAN [Concomitant]
     Active Substance: LIDOCAINE
     Route: 003
     Dates: start: 20140410, end: 20140410
  476. SOLDEM 3AG [Concomitant]
     Dosage: THE FRACTIONATION DOSE FREQUENCY IS UNCERTAIN.
     Route: 042
     Dates: start: 20140705, end: 20140711
  477. METHOTREXATE [Concomitant]
     Active Substance: METHOTREXATE
     Dosage: THE FRACTIONATION DOSE FREQUENCY IS UNCERTAIN.
     Route: 024
     Dates: start: 20141225, end: 20141225
  478. METOCLOPRAMIDE. [Concomitant]
     Active Substance: METOCLOPRAMIDE
     Dosage: THE FRACTIONATION DOSE FREQUENCY IS UNCERTAIN.
     Route: 042
     Dates: start: 20140805, end: 20140805
  479. METOCLOPRAMIDE. [Concomitant]
     Active Substance: METOCLOPRAMIDE
     Dosage: THE FRACTIONATION DOSE FREQUENCY IS UNCERTAIN.
     Route: 042
     Dates: start: 20150119, end: 20150119
  480. SULFAMETHOXAZOLE/TRIMETHOPRIM [Concomitant]
     Active Substance: SULFAMETHOXAZOLE\TRIMETHOPRIM
     Route: 048
     Dates: start: 20140729, end: 20140731
  481. SULFAMETHOXAZOLE/TRIMETHOPRIM [Concomitant]
     Active Substance: SULFAMETHOXAZOLE\TRIMETHOPRIM
     Route: 048
     Dates: start: 20140909, end: 20140911
  482. SULFAMETHOXAZOLE/TRIMETHOPRIM [Concomitant]
     Active Substance: SULFAMETHOXAZOLE\TRIMETHOPRIM
     Route: 048
     Dates: start: 20141104, end: 20141106
  483. SULFAMETHOXAZOLE/TRIMETHOPRIM [Concomitant]
     Active Substance: SULFAMETHOXAZOLE\TRIMETHOPRIM
     Route: 048
     Dates: start: 20141225, end: 20141227
  484. MEDICON (DEXTROMETHORPHAN HYDROBROMIDE) [Concomitant]
     Active Substance: DEXTROMETHORPHAN HYDROBROMIDE
     Route: 048
     Dates: start: 20140720, end: 20140827
  485. FIRSTCIN [Concomitant]
     Active Substance: CEFOZOPRAN HYDROCHLORIDE
     Dosage: THE FRACTIONATION DOSE FREQUENCY IS UNCERTAIN.
     Route: 041
     Dates: start: 20140719, end: 20140719
  486. SODIUM CHLORIDE. [Concomitant]
     Active Substance: SODIUM CHLORIDE
     Dosage: THE FRACTIONATION DOSE FREQUENCY IS UNCERTAIN.
     Route: 042
     Dates: start: 20140814, end: 20140816
  487. SODIUM CHLORIDE. [Concomitant]
     Active Substance: SODIUM CHLORIDE
     Dosage: THE FRACTIONATION DOSE FREQUENCY IS UNCERTAIN.
     Route: 042
     Dates: start: 20140924, end: 20140924
  488. SODIUM CHLORIDE. [Concomitant]
     Active Substance: SODIUM CHLORIDE
     Dosage: THE FRACTIONATION DOSE FREQUENCY IS UNCERTAIN.
     Route: 042
     Dates: start: 20141111, end: 20141112
  489. SODIUM CHLORIDE. [Concomitant]
     Active Substance: SODIUM CHLORIDE
     Dosage: THE FRACTIONATION DOSE FREQUENCY IS UNCERTAIN. ?ACCORDING TO THE PHYSICIAN INSTRUCTION
     Route: 065
     Dates: start: 20141116, end: 20141116
  490. SODIUM CHLORIDE. [Concomitant]
     Active Substance: SODIUM CHLORIDE
     Dosage: THE FRACTIONATION DOSE FREQUENCY IS UNCERTAIN.
     Route: 042
     Dates: start: 20141217, end: 20141219
  491. VANCOMYCIN HYDROCHLORIDE. [Concomitant]
     Active Substance: VANCOMYCIN HYDROCHLORIDE
     Dosage: THE FRACTIONATION DOSE FREQUENCY IS UNCERTAIN.
     Route: 042
     Dates: start: 20140808, end: 20140813
  492. ANHYDROUS ETHANOL [Concomitant]
     Dosage: THE FRACTIONATION DOSE FREQUENCY IS UNCERTAIN.
     Route: 042
     Dates: start: 20150114, end: 20150119
  493. ELNEOPA [Concomitant]
     Active Substance: UNSPECIFIED INGREDIENT
     Dosage: THE FRACTIONATION DOSE FREQUENCY IS UNCERTAIN.
     Route: 042
     Dates: start: 20140830, end: 20140830
  494. AVASTIN [Suspect]
     Active Substance: BEVACIZUMAB
     Indication: GLIOBLASTOMA
     Route: 041
     Dates: start: 20131002, end: 20131002
  495. AVASTIN [Suspect]
     Active Substance: BEVACIZUMAB
     Dosage: DOSAGE IS UNCERTAIN.
     Route: 041
     Dates: start: 20150106, end: 20150106
  496. TEMODAL [Suspect]
     Active Substance: TEMOZOLOMIDE
     Indication: GLIOBLASTOMA
     Dosage: DOSAGE IS UNCERTAIN.
     Route: 048
     Dates: start: 20130905
  497. TEMODAL [Suspect]
     Active Substance: TEMOZOLOMIDE
     Dosage: DOSAGE IS UNCERTAIN.
     Route: 048
     Dates: start: 20131127, end: 20131201
  498. CARBOPLATIN. [Suspect]
     Active Substance: CARBOPLATIN
     Indication: GLIOBLASTOMA
     Dosage: THE FRACTIONATION DOSE FREQUENCY IS UNCERTAIN.
     Route: 041
     Dates: start: 20140604, end: 20140604
  499. LEVETIRACETAM. [Concomitant]
     Active Substance: LEVETIRACETAM
     Dosage: THE FRACTIONATION DOSE FREQUENCY IS UNCERTAIN. ?ACCORDING TO 1X PHYSICIAN INSTRUCTION
     Route: 048
     Dates: start: 20131228, end: 20140101
  500. LEVETIRACETAM. [Concomitant]
     Active Substance: LEVETIRACETAM
     Dosage: THE FRACTIONATION DOSE FREQUENCY IS UNCERTAIN. ?ACCORDING TO 1X PHYSICIAN INSTRUCTION
     Route: 048
     Dates: start: 20140412, end: 20140505
  501. LEVETIRACETAM. [Concomitant]
     Active Substance: LEVETIRACETAM
     Dosage: THE FRACTIONATION DOSE FREQUENCY IS UNCERTAIN. ?ACCORDING TO 1X PHYSICIAN INSTRUCTION
     Route: 048
     Dates: start: 20141116, end: 20141117
  502. LEVETIRACETAM. [Concomitant]
     Active Substance: LEVETIRACETAM
     Dosage: THE FRACTIONATION DOSE FREQUENCY IS UNCERTAIN. ?ACCORDING TO 1X PHYSICIAN INSTRUCTION
     Route: 048
     Dates: start: 20141118, end: 20141123
  503. LEVETIRACETAM. [Concomitant]
     Active Substance: LEVETIRACETAM
     Dosage: THE FRACTIONATION DOSE FREQUENCY IS UNCERTAIN. ?ACCORDING TO 1X PHYSICIAN INSTRUCTION
     Route: 048
     Dates: start: 20141221, end: 20141231
  504. LEVETIRACETAM. [Concomitant]
     Active Substance: LEVETIRACETAM
     Dosage: THE FRACTIONATION DOSE FREQUENCY IS UNCERTAIN. ?ACCORDING TO 1X PHYSICIAN INSTRUCTION
     Route: 048
     Dates: start: 20150120, end: 20150120
  505. TEGRETOL [Concomitant]
     Active Substance: CARBAMAZEPINE
     Route: 048
     Dates: start: 20140207, end: 20140208
  506. TEGRETOL [Concomitant]
     Active Substance: CARBAMAZEPINE
     Route: 048
     Dates: start: 20140209, end: 20140210
  507. TEGRETOL [Concomitant]
     Active Substance: CARBAMAZEPINE
     Route: 048
     Dates: start: 20140401, end: 20140407
  508. NASEA [Concomitant]
     Active Substance: RAMOSETRON HYDROCHLORIDE
     Route: 048
     Dates: end: 20131006
  509. NASEA [Concomitant]
     Active Substance: RAMOSETRON HYDROCHLORIDE
     Route: 048
     Dates: start: 20141224, end: 20141228
  510. RINDERON V [Concomitant]
     Active Substance: BETAMETHASONE VALERATE
     Route: 003
     Dates: start: 20131218, end: 20131218
  511. MAGNESIUM OXIDE. [Concomitant]
     Active Substance: MAGNESIUM OXIDE
     Route: 048
     Dates: start: 20140411, end: 20140411
  512. SODIUM FERROUS CITRATE [Concomitant]
     Active Substance: SODIUM FERROUS CITRATE
     Route: 048
     Dates: start: 20131030, end: 20131210
  513. SOLDEM 1 [Concomitant]
     Active Substance: DEXTROSE\SODIUM CHLORIDE\SODIUM LACTATE
     Dosage: THE FRACTIONATION DOSE FREQUENCY IS UNCERTAIN.
     Route: 042
     Dates: start: 20140322, end: 20140322
  514. SOLDEM 1 [Concomitant]
     Active Substance: DEXTROSE\SODIUM CHLORIDE\SODIUM LACTATE
     Dosage: THE FRACTIONATION DOSE FREQUENCY IS UNCERTAIN.
     Route: 042
     Dates: start: 20140624, end: 20140624
  515. DIAPP [Concomitant]
     Active Substance: DIAZEPAM
     Dosage: THE FRACTIONATION DOSE FREQUENCY IS UNCERTAIN. ?ACCORDING TO THE PHYSICIAN INSTRUCTION?AT THE SPAS
     Route: 054
     Dates: start: 20140712, end: 20140715
  516. TRANEXAMIC ACID. [Concomitant]
     Active Substance: TRANEXAMIC ACID
     Route: 048
     Dates: start: 20131218, end: 20131227
  517. FAMOTIDINE. [Concomitant]
     Active Substance: FAMOTIDINE
     Route: 048
     Dates: start: 20140214, end: 20140224
  518. VEPESIDE [Concomitant]
     Active Substance: ETOPOSIDE
     Route: 048
     Dates: start: 20140220, end: 20140225
  519. VEPESIDE [Concomitant]
     Active Substance: ETOPOSIDE
     Route: 048
     Dates: start: 20140412, end: 20140415
  520. HEPARIN [Concomitant]
     Active Substance: HEPARIN SODIUM
     Dosage: THE FRACTIONATION DOSE FREQUENCY IS UNCERTAIN.
     Route: 041
     Dates: start: 20140228, end: 20140228
  521. HEPARIN [Concomitant]
     Active Substance: HEPARIN SODIUM
     Dosage: THE FRACTIONATION DOSE FREQUENCY IS UNCERTAIN.
     Route: 041
     Dates: start: 20140302, end: 20140302
  522. HEPARIN [Concomitant]
     Active Substance: HEPARIN SODIUM
     Dosage: THE FRACTIONATION DOSE FREQUENCY IS UNCERTAIN.
     Route: 041
     Dates: start: 20140305, end: 20140305
  523. HEPARIN [Concomitant]
     Active Substance: HEPARIN SODIUM
     Dosage: THE FRACTIONATION DOSE FREQUENCY IS UNCERTAIN.
     Route: 041
     Dates: start: 20140322, end: 20140322
  524. HEPARIN [Concomitant]
     Active Substance: HEPARIN SODIUM
     Dosage: THE FRACTIONATION DOSE FREQUENCY IS UNCERTAIN.
     Route: 041
     Dates: start: 20140430, end: 20140430
  525. HEPARIN [Concomitant]
     Active Substance: HEPARIN SODIUM
     Dosage: THE FRACTIONATION DOSE FREQUENCY IS UNCERTAIN.
     Route: 041
     Dates: start: 20140608, end: 20140609
  526. HEPARIN [Concomitant]
     Active Substance: HEPARIN SODIUM
     Dosage: THE FRACTIONATION DOSE FREQUENCY IS UNCERTAIN.
     Route: 041
     Dates: start: 20140829, end: 20140829
  527. HEPARIN [Concomitant]
     Active Substance: HEPARIN SODIUM
     Dosage: THE FRACTIONATION DOSE FREQUENCY IS UNCERTAIN.
     Route: 041
     Dates: start: 20140910, end: 20140910
  528. HEPARIN [Concomitant]
     Active Substance: HEPARIN SODIUM
     Dosage: THE FRACTIONATION DOSE FREQUENCY IS UNCERTAIN.
     Route: 041
     Dates: start: 20141017, end: 20141017
  529. HEPARIN [Concomitant]
     Active Substance: HEPARIN SODIUM
     Dosage: THE FRACTIONATION DOSE FREQUENCY IS UNCERTAIN.
     Route: 041
     Dates: start: 20141111, end: 20141111
  530. SEFMAZON [Concomitant]
     Active Substance: CEFAZOLIN
     Dosage: THE FRACTIONATION DOSE FREQUENCY IS UNCERTAIN.
     Route: 042
     Dates: start: 20140627, end: 20140627
  531. FENTANYL. [Concomitant]
     Active Substance: FENTANYL
     Dosage: THE FRACTIONATION DOSE FREQUENCY IS UNCERTAIN.
     Route: 042
     Dates: start: 20140626, end: 20140626
  532. ULTIVA [Concomitant]
     Active Substance: REMIFENTANIL HYDROCHLORIDE
     Dosage: THE FRACTIONATION DOSE FREQUENCY IS UNCERTAIN.
     Route: 042
     Dates: start: 20131216, end: 20131216
  533. ULTIVA [Concomitant]
     Active Substance: REMIFENTANIL HYDROCHLORIDE
     Dosage: THE FRACTIONATION DOSE FREQUENCY IS UNCERTAIN.
     Route: 042
     Dates: start: 20141217, end: 20141217
  534. RIBAVARIN [Concomitant]
     Active Substance: RIBAVIRIN
     Dosage: THE FRACTIONATION DOSE FREQUENCY IS UNCERTAIN.
     Route: 042
     Dates: start: 20131217, end: 20131217
  535. GLYCEREB [Concomitant]
     Dosage: THE FRACTIONATION DOSE FREQUENCY IS UNCERTAIN.
     Route: 042
     Dates: start: 20140220, end: 20140220
  536. GLYCEREB [Concomitant]
     Dosage: THE FRACTIONATION DOSE FREQUENCY IS UNCERTAIN.
     Route: 042
     Dates: start: 20140227, end: 20140227
  537. GLYCEREB [Concomitant]
     Dosage: THE FRACTIONATION DOSE FREQUENCY IS UNCERTAIN.
     Route: 042
     Dates: start: 20140228, end: 20140228
  538. GLYCEREB [Concomitant]
     Dosage: THE FRACTIONATION DOSE FREQUENCY IS UNCERTAIN.
     Route: 042
     Dates: start: 20140409, end: 20140410
  539. GLYCEREB [Concomitant]
     Dosage: THE FRACTIONATION DOSE FREQUENCY IS UNCERTAIN.
     Route: 042
     Dates: start: 20140910, end: 20140912
  540. GLYCEREB [Concomitant]
     Dosage: THE FRACTIONATION DOSE FREQUENCY IS UNCERTAIN.
     Route: 042
     Dates: start: 20141015, end: 20141015
  541. GLUCOSE [Concomitant]
     Active Substance: DEXTROSE
     Dosage: 50 DEXTROSE IN WATER?THE FRACTIONATION DOSE FREQUENCY IS UNCERTAIN.
     Route: 041
     Dates: start: 20140630, end: 20140630
  542. GRANISETRON [Concomitant]
     Active Substance: GRANISETRON
     Dosage: THE FRACTIONATION DOSE FREQUENCY IS UNCERTAIN.
     Route: 041
     Dates: start: 20140312, end: 20140312
  543. BETAMETHASONE. [Concomitant]
     Active Substance: BETAMETHASONE
     Route: 048
     Dates: start: 20141028, end: 20141029
  544. HICORT (JAPAN) [Concomitant]
     Dosage: THE FRACTIONATION DOSE FREQUENCY IS UNCERTAIN.
     Route: 042
     Dates: start: 20140214, end: 20140214
  545. HICORT (JAPAN) [Concomitant]
     Dosage: THE FRACTIONATION DOSE FREQUENCY IS UNCERTAIN.
     Route: 042
     Dates: start: 20140324, end: 20140328
  546. HICORT (JAPAN) [Concomitant]
     Dosage: THE FRACTIONATION DOSE FREQUENCY IS UNCERTAIN.
     Route: 042
     Dates: start: 20140919, end: 20140919
  547. HICORT (JAPAN) [Concomitant]
     Dosage: THE FRACTIONATION DOSE FREQUENCY IS UNCERTAIN.
     Route: 042
     Dates: start: 20141003, end: 20141003
  548. HICORT (JAPAN) [Concomitant]
     Dosage: THE FRACTIONATION DOSE FREQUENCY IS UNCERTAIN.
     Route: 042
     Dates: start: 20141016, end: 20141017
  549. DIAZEPAM. [Concomitant]
     Active Substance: DIAZEPAM
     Dosage: THE FRACTIONATION DOSE FREQUENCY IS UNCERTAIN.
     Route: 041
     Dates: start: 20140311, end: 20140311
  550. ATARAX-P [Concomitant]
     Active Substance: HYDROXYZINE HYDROCHLORIDE
     Dosage: THE FRACTIONATION DOSE FREQUENCY IS UNCERTAIN.
     Route: 042
     Dates: start: 20140805, end: 20140805
  551. ATARAX-P [Concomitant]
     Active Substance: HYDROXYZINE HYDROCHLORIDE
     Dosage: THE FRACTIONATION DOSE FREQUENCY IS UNCERTAIN.
     Route: 042
     Dates: start: 20141210, end: 20141210
  552. ATARAX-P [Concomitant]
     Active Substance: HYDROXYZINE HYDROCHLORIDE
     Dosage: THE FRACTIONATION DOSE FREQUENCY IS UNCERTAIN.
     Route: 042
     Dates: start: 20141222, end: 20141222
  553. MEDLENIK [Concomitant]
     Active Substance: CUPRIC SULFATE\FERRIC CHLORIDE\MANGANESE CHLORIDE\POTASSIUM IODIDE\ZINC SULFATE
     Dosage: THE FRACTIONATION DOSE FREQUENCY IS UNCERTAIN.
     Route: 042
     Dates: start: 20140808, end: 20140808
  554. METHOTREXATE [Concomitant]
     Active Substance: METHOTREXATE
     Dosage: THE FRACTIONATION DOSE FREQUENCY IS UNCERTAIN.
     Route: 024
     Dates: start: 20140821, end: 20140821
  555. METHOTREXATE [Concomitant]
     Active Substance: METHOTREXATE
     Dosage: THE FRACTIONATION DOSE FREQUENCY IS UNCERTAIN.
     Route: 024
     Dates: start: 20140904, end: 20140904
  556. METHOTREXATE [Concomitant]
     Active Substance: METHOTREXATE
     Dosage: THE FRACTIONATION DOSE FREQUENCY IS UNCERTAIN.
     Route: 024
     Dates: start: 20141106, end: 20141106
  557. CYLOCIDE [Concomitant]
     Active Substance: CYTARABINE
     Dosage: THE FRACTIONATION DOSE FREQUENCY IS UNCERTAIN.
     Route: 024
     Dates: start: 20141214, end: 20141214
  558. METOCLOPRAMIDE. [Concomitant]
     Active Substance: METOCLOPRAMIDE
     Dosage: THE FRACTIONATION DOSE FREQUENCY IS UNCERTAIN.
     Route: 042
     Dates: start: 20140703, end: 20140703
  559. METOCLOPRAMIDE. [Concomitant]
     Active Substance: METOCLOPRAMIDE
     Dosage: THE FRACTIONATION DOSE FREQUENCY IS UNCERTAIN.
     Route: 042
     Dates: start: 20140712, end: 20140712
  560. METOCLOPRAMIDE. [Concomitant]
     Active Substance: METOCLOPRAMIDE
     Dosage: THE FRACTIONATION DOSE FREQUENCY IS UNCERTAIN.
     Route: 042
     Dates: start: 20140817, end: 20140817
  561. METOCLOPRAMIDE. [Concomitant]
     Active Substance: METOCLOPRAMIDE
     Dosage: THE FRACTIONATION DOSE FREQUENCY IS UNCERTAIN.
     Route: 042
     Dates: start: 20140930, end: 20140930
  562. SULFAMETHOXAZOLE/TRIMETHOPRIM [Concomitant]
     Active Substance: SULFAMETHOXAZOLE\TRIMETHOPRIM
     Route: 048
     Dates: start: 20141125, end: 20141127
  563. SULFAMETHOXAZOLE/TRIMETHOPRIM [Concomitant]
     Active Substance: SULFAMETHOXAZOLE\TRIMETHOPRIM
     Route: 048
     Dates: start: 20150106, end: 20150111
  564. SULFAMETHOXAZOLE/TRIMETHOPRIM [Concomitant]
     Active Substance: SULFAMETHOXAZOLE\TRIMETHOPRIM
     Route: 048
     Dates: start: 20150114, end: 20150117
  565. SODIUM CHLORIDE. [Concomitant]
     Active Substance: SODIUM CHLORIDE
     Dosage: THE FRACTIONATION DOSE FREQUENCY IS UNCERTAIN.
     Route: 042
     Dates: start: 20140722, end: 20140725
  566. SODIUM CHLORIDE. [Concomitant]
     Active Substance: SODIUM CHLORIDE
     Dosage: THE FRACTIONATION DOSE FREQUENCY IS UNCERTAIN.
     Route: 042
     Dates: start: 20140804, end: 20140806
  567. SODIUM CHLORIDE. [Concomitant]
     Active Substance: SODIUM CHLORIDE
     Dosage: THE FRACTIONATION DOSE FREQUENCY IS UNCERTAIN.
     Route: 042
     Dates: start: 20140811, end: 20140811
  568. SODIUM CHLORIDE. [Concomitant]
     Active Substance: SODIUM CHLORIDE
     Dosage: THE FRACTIONATION DOSE FREQUENCY IS UNCERTAIN.
     Route: 042
     Dates: start: 20140812, end: 20140812
  569. SODIUM CHLORIDE. [Concomitant]
     Active Substance: SODIUM CHLORIDE
     Dosage: THE FRACTIONATION DOSE FREQUENCY IS UNCERTAIN.
     Route: 042
     Dates: start: 20140915, end: 20140915
  570. SODIUM CHLORIDE. [Concomitant]
     Active Substance: SODIUM CHLORIDE
     Dosage: THE FRACTIONATION DOSE FREQUENCY IS UNCERTAIN.
     Route: 042
     Dates: start: 20141113, end: 20141116
  571. SODIUM CHLORIDE. [Concomitant]
     Active Substance: SODIUM CHLORIDE
     Dosage: THE FRACTIONATION DOSE FREQUENCY IS UNCERTAIN. ?ACCORDING TO THE PHYSICIAN INSTRUCTION
     Route: 065
     Dates: start: 20141125, end: 20141125
  572. SODIUM CHLORIDE. [Concomitant]
     Active Substance: SODIUM CHLORIDE
     Dosage: THE FRACTIONATION DOSE FREQUENCY IS UNCERTAIN.
     Route: 042
     Dates: start: 20141203, end: 20141212
  573. SODIUM CHLORIDE. [Concomitant]
     Active Substance: SODIUM CHLORIDE
     Dosage: THE FRACTIONATION DOSE FREQUENCY IS UNCERTAIN.
     Route: 042
     Dates: start: 20150114, end: 20150120
  574. VANCOMYCIN HYDROCHLORIDE. [Concomitant]
     Active Substance: VANCOMYCIN HYDROCHLORIDE
     Dosage: THE FRACTIONATION DOSE FREQUENCY IS UNCERTAIN.
     Route: 042
     Dates: start: 20140814, end: 20140814
  575. VANCOMYCIN HYDROCHLORIDE. [Concomitant]
     Active Substance: VANCOMYCIN HYDROCHLORIDE
     Dosage: THE FRACTIONATION DOSE FREQUENCY IS UNCERTAIN.
     Route: 042
     Dates: start: 20141210, end: 20141210
  576. ELNEOPA [Concomitant]
     Active Substance: UNSPECIFIED INGREDIENT
     Dosage: THE FRACTIONATION DOSE FREQUENCY IS UNCERTAIN. ?ACCORDING TO THE PHYSICIAN INSTRUCTION
     Route: 065
     Dates: start: 20141021, end: 20141021
  577. SOL-MELCORT [Concomitant]
     Active Substance: METHYLPREDNISOLONE SODIUM SUCCINATE
     Dosage: THE FRACTIONATION DOSE FREQUENCY IS UNCERTAIN.
     Route: 042
     Dates: start: 20141002, end: 20141002
  578. AVASTIN [Suspect]
     Active Substance: BEVACIZUMAB
     Dosage: DOSAGE IS UNCERTAIN.
     Route: 041
     Dates: start: 20131016, end: 20131016
  579. AVASTIN [Suspect]
     Active Substance: BEVACIZUMAB
     Dosage: DOSAGE IS UNCERTAIN.
     Route: 041
     Dates: start: 20131211, end: 20131211
  580. TEMODAL [Suspect]
     Active Substance: TEMOZOLOMIDE
     Dosage: DOSAGE IS UNCERTAIN.
     Route: 048
     Dates: start: 20140828, end: 20140901
  581. TEMODAL [Suspect]
     Active Substance: TEMOZOLOMIDE
     Dosage: DOSAGE IS UNCERTAIN.
     Route: 048
     Dates: start: 20141116, end: 20141120
  582. CARBOCISTEINE [Concomitant]
     Active Substance: CARBOCYSTEINE
     Route: 048
     Dates: start: 20131223, end: 20140103
  583. LEVETIRACETAM. [Concomitant]
     Active Substance: LEVETIRACETAM
     Dosage: THE FRACTIONATION DOSE FREQUENCY IS UNCERTAIN. ?ACCORDING TO 1X PHYSICIAN INSTRUCTION
     Route: 048
     Dates: start: 20140212, end: 20140223
  584. LEVETIRACETAM. [Concomitant]
     Active Substance: LEVETIRACETAM
     Dosage: THE FRACTIONATION DOSE FREQUENCY IS UNCERTAIN. ?ACCORDING TO 1X PHYSICIAN INSTRUCTION
     Route: 048
     Dates: start: 20140226, end: 20140311
  585. LEVETIRACETAM. [Concomitant]
     Active Substance: LEVETIRACETAM
     Dosage: THE FRACTIONATION DOSE FREQUENCY IS UNCERTAIN. ?ACCORDING TO 1 X PHYSICIAN INSTRUCTION
     Route: 048
     Dates: start: 20140312, end: 20140331
  586. LEVETIRACETAM. [Concomitant]
     Active Substance: LEVETIRACETAM
     Dosage: THE FRACTIONATION DOSE FREQUENCY IS UNCERTAIN. ?ACCORDING TO 1XPHYSICIAN INSTRUCTION
     Route: 048
     Dates: start: 20140703, end: 20141002
  587. LEVETIRACETAM. [Concomitant]
     Active Substance: LEVETIRACETAM
     Dosage: THE FRACTIONATION DOSE FREQUENCY IS UNCERTAIN. ?ACCORDING TO 1XPHYSICIAN INSTRUCTION
     Route: 048
     Dates: start: 20141003, end: 20141003
  588. TEGRETOL [Concomitant]
     Active Substance: CARBAMAZEPINE
     Route: 048
     Dates: start: 20140102, end: 20140103
  589. TEGRETOL [Concomitant]
     Active Substance: CARBAMAZEPINE
     Route: 048
     Dates: start: 20140115, end: 20140203
  590. TEGRETOL [Concomitant]
     Active Substance: CARBAMAZEPINE
     Route: 048
     Dates: start: 20140212, end: 20140219
  591. TEGRETOL [Concomitant]
     Active Substance: CARBAMAZEPINE
     Route: 048
     Dates: start: 20140507, end: 20140508
  592. TEGRETOL [Concomitant]
     Active Substance: CARBAMAZEPINE
     Route: 048
     Dates: start: 20140509, end: 20140512
  593. TEGRETOL [Concomitant]
     Active Substance: CARBAMAZEPINE
     Route: 048
     Dates: start: 20141116, end: 20141117
  594. TEGRETOL [Concomitant]
     Active Substance: CARBAMAZEPINE
     Route: 048
     Dates: start: 20141221, end: 20141231
  595. TEGRETOL [Concomitant]
     Active Substance: CARBAMAZEPINE
     Route: 048
     Dates: start: 20150120, end: 20150120
  596. NASEA [Concomitant]
     Active Substance: RAMOSETRON HYDROCHLORIDE
     Route: 048
     Dates: start: 20141021, end: 20141025
  597. BACTRAMIN [Concomitant]
     Active Substance: SULFAMETHOXAZOLE\TRIMETHOPRIM
     Route: 048
     Dates: start: 20140204, end: 20140209
  598. BACTRAMIN [Concomitant]
     Active Substance: SULFAMETHOXAZOLE\TRIMETHOPRIM
     Route: 048
     Dates: start: 20140226, end: 20140228
  599. MAGNESIUM OXIDE. [Concomitant]
     Active Substance: MAGNESIUM OXIDE
     Route: 048
     Dates: start: 20131220, end: 20131222
  600. MAGNESIUM OXIDE. [Concomitant]
     Active Substance: MAGNESIUM OXIDE
     Route: 048
     Dates: start: 20140307, end: 20140310
  601. MAGNESIUM OXIDE. [Concomitant]
     Active Substance: MAGNESIUM OXIDE
     Route: 048
     Dates: start: 20140314, end: 20140315
  602. MAGNESIUM OXIDE. [Concomitant]
     Active Substance: MAGNESIUM OXIDE
     Route: 048
     Dates: start: 20140315, end: 20140331
  603. SOLDEM 1 [Concomitant]
     Active Substance: DEXTROSE\SODIUM CHLORIDE\SODIUM LACTATE
     Dosage: THE FRACTIONATION DOSE FREQUENCY IS UNCERTAIN.
     Route: 042
     Dates: start: 20140219, end: 20140219
  604. AMBROXOL HYDROCHLORIDE [Concomitant]
     Active Substance: AMBROXOL HYDROCHLORIDE
     Route: 048
     Dates: start: 20140720, end: 20140827
  605. CARBAZOCHROME SODIUM SULFONATE [Concomitant]
     Active Substance: CARBAZOCHROME SODIUM SULFONATE
     Route: 048
     Dates: start: 20140102, end: 20140103
  606. TRANEXAMIC ACID. [Concomitant]
     Active Substance: TRANEXAMIC ACID
     Route: 048
     Dates: start: 20131228, end: 20140101
  607. TRANEXAMIC ACID. [Concomitant]
     Active Substance: TRANEXAMIC ACID
     Route: 048
     Dates: start: 20140628, end: 20140702
  608. FAMOTIDINE. [Concomitant]
     Active Substance: FAMOTIDINE
     Route: 048
     Dates: start: 20131219, end: 20131225
  609. FAMOTIDINE. [Concomitant]
     Active Substance: FAMOTIDINE
     Dosage: THE FRACTIONATION DOSE FREQUENCY IS UNCERTAIN.
     Route: 041
     Dates: start: 20140917, end: 20140917
  610. FAMOTIDINE. [Concomitant]
     Active Substance: FAMOTIDINE
     Dosage: THE FRACTIONATION DOSE FREQUENCY IS UNCERTAIN.
     Route: 041
     Dates: start: 20140918, end: 20140918
  611. FAMOTIDINE. [Concomitant]
     Active Substance: FAMOTIDINE
     Dosage: THE FRACTIONATION DOSE FREQUENCY IS UNCERTAIN.
     Route: 041
     Dates: start: 20140918, end: 20140918
  612. FAMOTIDINE. [Concomitant]
     Active Substance: FAMOTIDINE
     Dosage: THE FRACTIONATION DOSE FREQUENCY IS UNCERTAIN.
     Route: 041
     Dates: start: 20140927, end: 20141002
  613. VEPESIDE [Concomitant]
     Active Substance: ETOPOSIDE
     Route: 048
     Dates: start: 20140102, end: 20140103
  614. VEPESIDE [Concomitant]
     Active Substance: ETOPOSIDE
     Route: 048
     Dates: start: 20140411, end: 20140411
  615. HEPARIN [Concomitant]
     Active Substance: HEPARIN SODIUM
     Dosage: THE FRACTIONATION DOSE FREQUENCY IS UNCERTAIN.
     Route: 041
     Dates: start: 20140108, end: 20140108
  616. HEPARIN [Concomitant]
     Active Substance: HEPARIN SODIUM
     Dosage: THE FRACTIONATION DOSE FREQUENCY IS UNCERTAIN.
     Route: 041
     Dates: start: 20140226, end: 20140226
  617. HEPARIN [Concomitant]
     Active Substance: HEPARIN SODIUM
     Dosage: THE FRACTIONATION DOSE FREQUENCY IS UNCERTAIN.
     Route: 041
     Dates: start: 20140709, end: 20140709
  618. SEFMAZON [Concomitant]
     Active Substance: CEFAZOLIN
     Dosage: THE FRACTIONATION DOSE FREQUENCY IS UNCERTAIN.
     Route: 042
     Dates: start: 20140626, end: 20140626
  619. CHICHINA [Concomitant]
     Dosage: THE FRACTIONATION DOSE FREQUENCY IS UNCERTAIN.
     Route: 042
     Dates: start: 20140303, end: 20140303
  620. RIBAVARIN [Concomitant]
     Active Substance: RIBAVIRIN
     Dosage: THE FRACTIONATION DOSE FREQUENCY IS UNCERTAIN.
     Route: 042
     Dates: start: 20140626, end: 20140626
  621. GLYCEREB [Concomitant]
     Dosage: THE FRACTIONATION DOSE FREQUENCY IS UNCERTAIN.
     Route: 042
     Dates: start: 20131216, end: 20131216
  622. GLYCEREB [Concomitant]
     Dosage: THE FRACTIONATION DOSE FREQUENCY IS UNCERTAIN.
     Route: 042
     Dates: start: 20140212, end: 20140213
  623. GLYCEREB [Concomitant]
     Dosage: THE FRACTIONATION DOSE FREQUENCY IS UNCERTAIN.
     Route: 042
     Dates: start: 20140322, end: 20140322
  624. GLYCEREB [Concomitant]
     Dosage: THE FRACTIONATION DOSE FREQUENCY IS UNCERTAIN.
     Route: 042
     Dates: start: 20140408, end: 20140408
  625. GLYCEREB [Concomitant]
     Dosage: THE FRACTIONATION DOSE FREQUENCY IS UNCERTAIN.
     Route: 042
     Dates: start: 20141003, end: 20141003
  626. GLUCOSE [Concomitant]
     Active Substance: DEXTROSE
     Dosage: 50 DEXTROSE IN WATER?THE FRACTIONATION DOSE FREQUENCY IS UNCERTAIN.
     Route: 041
     Dates: start: 20131217, end: 20131218
  627. GLUCOSE [Concomitant]
     Active Substance: DEXTROSE
     Dosage: 50 DEXTROSE IN WATER?THE FRACTIONATION DOSE FREQUENCY IS UNCERTAIN.
     Route: 041
     Dates: start: 20140311, end: 20140311
  628. GRANISETRON [Concomitant]
     Active Substance: GRANISETRON
     Dosage: THE FRACTIONATION DOSE FREQUENCY IS UNCERTAIN.
     Route: 041
     Dates: start: 20140205, end: 20140205
  629. GRANISETRON [Concomitant]
     Active Substance: GRANISETRON
     Dosage: THE FRACTIONATION DOSE FREQUENCY IS UNCERTAIN.
     Route: 041
     Dates: start: 20140409, end: 20140409
  630. GRANISETRON [Concomitant]
     Active Substance: GRANISETRON
     Dosage: THE FRACTIONATION DOSE FREQUENCY IS UNCERTAIN.
     Route: 041
     Dates: start: 20140904, end: 20140905
  631. GRANISETRON [Concomitant]
     Active Substance: GRANISETRON
     Dosage: THE FRACTIONATION DOSE FREQUENCY IS UNCERTAIN.
     Route: 041
     Dates: start: 20141106, end: 20141106
  632. DECADRON [Concomitant]
     Active Substance: DEXAMETHASONE
     Dosage: THE FRACTIONATION DOSE FREQUENCY IS UNCERTAIN.
     Route: 024
     Dates: start: 20140904, end: 20140904
  633. DECADRON [Concomitant]
     Active Substance: DEXAMETHASONE
     Dosage: THE FRACTIONATION DOSE FREQUENCY IS UNCERTAIN.
     Route: 024
     Dates: start: 20141106, end: 20141106
  634. BETAMETHASONE. [Concomitant]
     Active Substance: BETAMETHASONE
     Route: 048
     Dates: start: 20141017, end: 20141027
  635. BETAMETHASONE. [Concomitant]
     Active Substance: BETAMETHASONE
     Route: 048
     Dates: start: 20141125, end: 20141205
  636. HICORT (JAPAN) [Concomitant]
     Dosage: THE FRACTIONATION DOSE FREQUENCY IS UNCERTAIN.
     Route: 042
     Dates: start: 20140303, end: 20140304
  637. HICORT (JAPAN) [Concomitant]
     Dosage: THE FRACTIONATION DOSE FREQUENCY IS UNCERTAIN.
     Route: 042
     Dates: start: 20140322, end: 20140322
  638. DIAZEPAM. [Concomitant]
     Active Substance: DIAZEPAM
     Dosage: THE FRACTIONATION DOSE FREQUENCY IS UNCERTAIN.
     Route: 041
     Dates: start: 20140626, end: 20140627
  639. ATARAX-P [Concomitant]
     Active Substance: HYDROXYZINE HYDROCHLORIDE
     Dosage: THE FRACTIONATION DOSE FREQUENCY IS UNCERTAIN.
     Route: 042
     Dates: start: 20140821, end: 20140821
  640. MEDLENIK [Concomitant]
     Active Substance: CUPRIC SULFATE\FERRIC CHLORIDE\MANGANESE CHLORIDE\POTASSIUM IODIDE\ZINC SULFATE
     Dosage: THE FRACTIONATION DOSE FREQUENCY IS UNCERTAIN.
     Route: 042
     Dates: start: 20140313, end: 20140320
  641. MEDLENIK [Concomitant]
     Active Substance: CUPRIC SULFATE\FERRIC CHLORIDE\MANGANESE CHLORIDE\POTASSIUM IODIDE\ZINC SULFATE
     Dosage: THE FRACTIONATION DOSE FREQUENCY IS UNCERTAIN.
     Route: 042
     Dates: start: 20140322, end: 20140322
  642. MEDLENIK [Concomitant]
     Active Substance: CUPRIC SULFATE\FERRIC CHLORIDE\MANGANESE CHLORIDE\POTASSIUM IODIDE\ZINC SULFATE
     Dosage: THE FRACTIONATION DOSE FREQUENCY IS UNCERTAIN.
     Route: 042
     Dates: start: 20140722, end: 20140725
  643. SOLDEM 3AG [Concomitant]
     Dosage: THE FRACTIONATION DOSE FREQUENCY IS UNCERTAIN.
     Route: 042
     Dates: start: 20140713, end: 20140714
  644. METHOTREXATE [Concomitant]
     Active Substance: METHOTREXATE
     Dosage: THE FRACTIONATION DOSE FREQUENCY IS UNCERTAIN.
     Route: 024
     Dates: start: 20141204, end: 20141204
  645. CYLOCIDE [Concomitant]
     Active Substance: CYTARABINE
     Dosage: THE FRACTIONATION DOSE FREQUENCY IS UNCERTAIN.
     Route: 024
     Dates: start: 20140821, end: 20140821
  646. CYLOCIDE [Concomitant]
     Active Substance: CYTARABINE
     Dosage: THE FRACTIONATION DOSE FREQUENCY IS UNCERTAIN.
     Route: 024
     Dates: start: 20141106, end: 20141106
  647. METOCLOPRAMIDE. [Concomitant]
     Active Substance: METOCLOPRAMIDE
     Dosage: THE FRACTIONATION DOSE FREQUENCY IS UNCERTAIN.
     Route: 042
     Dates: start: 20140814, end: 20140815
  648. METOCLOPRAMIDE. [Concomitant]
     Active Substance: METOCLOPRAMIDE
     Dosage: THE FRACTIONATION DOSE FREQUENCY IS UNCERTAIN.
     Route: 042
     Dates: start: 20140829, end: 20140830
  649. METOCLOPRAMIDE. [Concomitant]
     Active Substance: METOCLOPRAMIDE
     Dosage: THE FRACTIONATION DOSE FREQUENCY IS UNCERTAIN.
     Route: 042
     Dates: start: 20140907, end: 20140908
  650. SULFAMETHOXAZOLE/TRIMETHOPRIM [Concomitant]
     Active Substance: SULFAMETHOXAZOLE\TRIMETHOPRIM
     Route: 048
     Dates: start: 20141111, end: 20141113
  651. SULFAMETHOXAZOLE/TRIMETHOPRIM [Concomitant]
     Active Substance: SULFAMETHOXAZOLE\TRIMETHOPRIM
     Route: 048
     Dates: start: 20141214, end: 20141214
  652. FIRSTCIN [Concomitant]
     Active Substance: CEFOZOPRAN HYDROCHLORIDE
     Dosage: THE FRACTIONATION DOSE FREQUENCY IS UNCERTAIN.
     Route: 041
     Dates: start: 20140713, end: 20140713
  653. SODIUM CHLORIDE. [Concomitant]
     Active Substance: SODIUM CHLORIDE
     Dosage: THE FRACTIONATION DOSE FREQUENCY IS UNCERTAIN.
     Route: 042
     Dates: start: 20140925, end: 20140929
  654. SODIUM CHLORIDE. [Concomitant]
     Active Substance: SODIUM CHLORIDE
     Dosage: THE FRACTIONATION DOSE FREQUENCY IS UNCERTAIN. ?ACCORDING TO THE PHYSICIAN INSTRUCTION
     Route: 065
     Dates: start: 20141228, end: 20141228
  655. SODIUM CHLORIDE. [Concomitant]
     Active Substance: SODIUM CHLORIDE
     Dosage: THE FRACTIONATION DOSE FREQUENCY IS UNCERTAIN. ?ACCORDING TO THE PHYSICIAN INSTRUCTION
     Route: 065
     Dates: start: 20150106, end: 20150106
  656. ANHYDROUS ETHANOL [Concomitant]
     Dosage: THE FRACTIONATION DOSE FREQUENCY IS UNCERTAIN.
     Route: 042
     Dates: start: 20141108, end: 20141112
  657. SOL-MELCORT [Concomitant]
     Active Substance: METHYLPREDNISOLONE SODIUM SUCCINATE
     Dosage: THE FRACTIONATION DOSE FREQUENCY IS UNCERTAIN.
     Route: 042
     Dates: start: 20140912, end: 20140912
  658. SOL-MELCORT [Concomitant]
     Active Substance: METHYLPREDNISOLONE SODIUM SUCCINATE
     Dosage: THE FRACTIONATION DOSE FREQUENCY IS UNCERTAIN.
     Route: 042
     Dates: start: 20140922, end: 20140922
  659. AZUNOL [Concomitant]
     Active Substance: SODIUM GUALENATE
     Route: 003
     Dates: start: 20141116, end: 20141116
  660. AVASTIN [Suspect]
     Active Substance: BEVACIZUMAB
     Dosage: DOSAGE IS UNCERTAIN.
     Route: 041
     Dates: start: 20140122, end: 20140122
  661. AVASTIN [Suspect]
     Active Substance: BEVACIZUMAB
     Dosage: DOSAGE IS UNCERTAIN.
     Route: 041
     Dates: start: 20150120, end: 20150120
  662. TEMODAL [Suspect]
     Active Substance: TEMOZOLOMIDE
     Dosage: DOSAGE IS UNCERTAIN.
     Route: 048
     Dates: start: 20131030, end: 20131103
  663. TEMODAL [Suspect]
     Active Substance: TEMOZOLOMIDE
     Dosage: DOSAGE IS UNCERTAIN.
     Route: 048
     Dates: start: 20140731, end: 20140804
  664. CARBOPLATIN. [Suspect]
     Active Substance: CARBOPLATIN
     Indication: GLIOBLASTOMA
     Dosage: THE FRACTIONATION DOSE FREQUENCY IS UNCERTAIN.
     Route: 041
     Dates: start: 20131225, end: 20131225
  665. CARBOPLATIN. [Suspect]
     Active Substance: CARBOPLATIN
     Indication: GLIOBLASTOMA
     Dosage: THE FRACTIONATION DOSE FREQUENCY IS UNCERTAIN.
     Route: 041
     Dates: start: 20140205, end: 20140205
  666. CARBOPLATIN. [Suspect]
     Active Substance: CARBOPLATIN
     Indication: GLIOBLASTOMA
     Dosage: THE FRACTIONATION DOSE FREQUENCY IS UNCERTAIN.
     Route: 041
     Dates: start: 20140409, end: 20140409
  667. CARBOPLATIN. [Suspect]
     Active Substance: CARBOPLATIN
     Indication: GLIOBLASTOMA
     Dosage: THE FRACTIONATION DOSE FREQUENCY IS UNCERTAIN.
     Route: 041
     Dates: start: 20140507, end: 20140507
  668. ASVERIN (TIPEPIDINE HIBENZATE) [Concomitant]
     Active Substance: TIPEPIDINE HIBENZATE
     Route: 048
     Dates: start: 20131113, end: 20131210
  669. LEVETIRACETAM. [Concomitant]
     Active Substance: LEVETIRACETAM
     Dosage: THE FRACTIONATION DOSE FREQUENCY IS UNCERTAIN. ?ACCORDING TO 1X PHYSICIAN INSTRUCTION
     Route: 048
     Dates: start: 20131022, end: 20131028
  670. LEVETIRACETAM. [Concomitant]
     Active Substance: LEVETIRACETAM
     Dosage: THE FRACTIONATION DOSE FREQUENCY IS UNCERTAIN. ?ACCORDING TO 1X PHYSICIAN INSTRUCTION
     Route: 048
     Dates: start: 20131127, end: 20131210
  671. LEVETIRACETAM. [Concomitant]
     Active Substance: LEVETIRACETAM
     Dosage: THE FRACTIONATION DOSE FREQUENCY IS UNCERTAIN. ?ACCORDING TO 1X PHYSICIAN INSTRUCTION
     Route: 048
     Dates: start: 20131213, end: 20131213
  672. LEVETIRACETAM. [Concomitant]
     Active Substance: LEVETIRACETAM
     Dosage: THE FRACTIONATION DOSE FREQUENCY IS UNCERTAIN. ?ACCORDING TO 1X PHYSICIAN INSTRUCTION
     Route: 048
     Dates: start: 20140506, end: 20140506
  673. LEVETIRACETAM. [Concomitant]
     Active Substance: LEVETIRACETAM
     Dosage: THE FRACTIONATION DOSE FREQUENCY IS UNCERTAIN. ?ACCORDING TO 1X PHYSICIAN INSTRUCTION
     Route: 048
     Dates: start: 20140702, end: 20140702
  674. LEVETIRACETAM. [Concomitant]
     Active Substance: LEVETIRACETAM
     Dosage: THE FRACTIONATION DOSE FREQUENCY IS UNCERTAIN. ?ACCORDING TO 1X PHYSICIAN INSTRUCTION
     Route: 048
     Dates: start: 20141125, end: 20141208
  675. TEGRETOL [Concomitant]
     Active Substance: CARBAMAZEPINE
     Route: 048
     Dates: start: 20140224, end: 20140224
  676. TEGRETOL [Concomitant]
     Active Substance: CARBAMAZEPINE
     Route: 048
     Dates: start: 20141028, end: 20141115
  677. MAGNESIUM OXIDE. [Concomitant]
     Active Substance: MAGNESIUM OXIDE
     Route: 048
     Dates: start: 20141112, end: 20141115
  678. MAGNESIUM OXIDE. [Concomitant]
     Active Substance: MAGNESIUM OXIDE
     Route: 048
     Dates: start: 20141117, end: 20141209
  679. PERAPRIN [Concomitant]
     Active Substance: METOCLOPRAMIDE
     Dosage: THE FRACTIONATION DOSE FREQUENCY IS UNCERTAIN.
     Route: 042
     Dates: start: 20140311, end: 20140311
  680. TULOBUTEROL [Concomitant]
     Active Substance: TULOBUTEROL
     Route: 062
     Dates: start: 20131113, end: 20131113
  681. FAMOTIDINE. [Concomitant]
     Active Substance: FAMOTIDINE
     Route: 048
     Dates: start: 20140226, end: 20140311
  682. FAMOTIDINE. [Concomitant]
     Active Substance: FAMOTIDINE
     Dosage: THE FRACTIONATION DOSE FREQUENCY IS UNCERTAIN.
     Route: 041
     Dates: start: 20131217, end: 20131218

REACTIONS (9)
  - Pruritus [Unknown]
  - Erythema [Unknown]
  - Intracranial tumour haemorrhage [Fatal]
  - Brain herniation [Fatal]
  - Abnormal sensation in eye [Unknown]
  - Nausea [Unknown]
  - Pyrexia [Unknown]
  - Constipation [Unknown]
  - Dry skin [Unknown]

NARRATIVE: CASE EVENT DATE: 20150123
